FAERS Safety Report 24373364 (Version 17)
Quarter: 2025Q2

REPORT INFORMATION
  Report Type: Spontaneous
  Country: GB (occurrence: GB)
  Receive Date: 20240927
  Receipt Date: 20250602
  Transmission Date: 20250717
  Serious: Yes (Other)
  Sender: SANDOZ
  Company Number: GB-002147023-NVSC2024GB183946

PATIENT
  Age: 41 Year
  Sex: Female

DRUGS (1257)
  1. AZATHIOPRINE [Suspect]
     Active Substance: AZATHIOPRINE
     Route: 065
  2. AZATHIOPRINE [Suspect]
     Active Substance: AZATHIOPRINE
     Route: 065
  3. AZATHIOPRINE [Suspect]
     Active Substance: AZATHIOPRINE
     Route: 065
  4. AZATHIOPRINE [Suspect]
     Active Substance: AZATHIOPRINE
     Route: 065
  5. AZATHIOPRINE [Suspect]
     Active Substance: AZATHIOPRINE
     Route: 065
  6. AZATHIOPRINE [Suspect]
     Active Substance: AZATHIOPRINE
     Route: 065
  7. AZATHIOPRINE [Suspect]
     Active Substance: AZATHIOPRINE
     Route: 065
  8. AZATHIOPRINE [Suspect]
     Active Substance: AZATHIOPRINE
     Route: 065
  9. AZATHIOPRINE [Suspect]
     Active Substance: AZATHIOPRINE
     Route: 065
  10. AZATHIOPRINE [Suspect]
     Active Substance: AZATHIOPRINE
     Route: 065
  11. AZATHIOPRINE [Suspect]
     Active Substance: AZATHIOPRINE
     Route: 065
  12. AZATHIOPRINE [Suspect]
     Active Substance: AZATHIOPRINE
     Route: 065
  13. AZATHIOPRINE [Suspect]
     Active Substance: AZATHIOPRINE
     Route: 065
  14. AZATHIOPRINE [Suspect]
     Active Substance: AZATHIOPRINE
     Route: 065
  15. AZATHIOPRINE [Suspect]
     Active Substance: AZATHIOPRINE
     Route: 065
  16. AZATHIOPRINE [Suspect]
     Active Substance: AZATHIOPRINE
     Route: 065
  17. AZATHIOPRINE [Suspect]
     Active Substance: AZATHIOPRINE
     Route: 065
  18. AZATHIOPRINE [Suspect]
     Active Substance: AZATHIOPRINE
     Route: 065
  19. AZATHIOPRINE [Suspect]
     Active Substance: AZATHIOPRINE
     Route: 065
  20. AZATHIOPRINE [Suspect]
     Active Substance: AZATHIOPRINE
     Route: 065
  21. AZATHIOPRINE [Suspect]
     Active Substance: AZATHIOPRINE
     Route: 065
  22. AZATHIOPRINE [Suspect]
     Active Substance: AZATHIOPRINE
     Route: 065
  23. AZATHIOPRINE [Suspect]
     Active Substance: AZATHIOPRINE
     Route: 065
  24. AZATHIOPRINE [Suspect]
     Active Substance: AZATHIOPRINE
     Route: 065
  25. AZATHIOPRINE [Suspect]
     Active Substance: AZATHIOPRINE
     Route: 065
  26. AZATHIOPRINE [Suspect]
     Active Substance: AZATHIOPRINE
     Route: 065
  27. AZATHIOPRINE [Suspect]
     Active Substance: AZATHIOPRINE
     Route: 065
  28. AZATHIOPRINE [Suspect]
     Active Substance: AZATHIOPRINE
     Route: 065
  29. AZATHIOPRINE [Suspect]
     Active Substance: AZATHIOPRINE
     Route: 065
  30. AZATHIOPRINE [Suspect]
     Active Substance: AZATHIOPRINE
     Route: 065
  31. AZATHIOPRINE [Suspect]
     Active Substance: AZATHIOPRINE
     Route: 065
  32. AZATHIOPRINE [Suspect]
     Active Substance: AZATHIOPRINE
     Route: 065
  33. AZATHIOPRINE [Suspect]
     Active Substance: AZATHIOPRINE
     Route: 065
  34. AZATHIOPRINE [Suspect]
     Active Substance: AZATHIOPRINE
     Route: 065
  35. AZATHIOPRINE [Suspect]
     Active Substance: AZATHIOPRINE
     Route: 065
  36. AZATHIOPRINE [Suspect]
     Active Substance: AZATHIOPRINE
     Route: 065
  37. AZATHIOPRINE [Suspect]
     Active Substance: AZATHIOPRINE
     Route: 065
  38. AZATHIOPRINE [Suspect]
     Active Substance: AZATHIOPRINE
     Route: 065
  39. AZATHIOPRINE [Suspect]
     Active Substance: AZATHIOPRINE
     Route: 065
  40. AZATHIOPRINE [Suspect]
     Active Substance: AZATHIOPRINE
     Route: 065
  41. AZATHIOPRINE [Suspect]
     Active Substance: AZATHIOPRINE
     Route: 065
  42. AZATHIOPRINE [Suspect]
     Active Substance: AZATHIOPRINE
     Route: 065
  43. AZATHIOPRINE [Suspect]
     Active Substance: AZATHIOPRINE
     Route: 065
  44. AZATHIOPRINE [Suspect]
     Active Substance: AZATHIOPRINE
     Route: 065
  45. AZATHIOPRINE [Suspect]
     Active Substance: AZATHIOPRINE
     Route: 065
  46. AZATHIOPRINE [Suspect]
     Active Substance: AZATHIOPRINE
     Route: 065
  47. AZATHIOPRINE [Suspect]
     Active Substance: AZATHIOPRINE
     Route: 065
  48. AZATHIOPRINE [Suspect]
     Active Substance: AZATHIOPRINE
     Route: 065
  49. AZATHIOPRINE [Suspect]
     Active Substance: AZATHIOPRINE
     Route: 065
  50. AZATHIOPRINE [Suspect]
     Active Substance: AZATHIOPRINE
     Route: 065
  51. AZATHIOPRINE [Suspect]
     Active Substance: AZATHIOPRINE
     Route: 065
  52. AZATHIOPRINE [Suspect]
     Active Substance: AZATHIOPRINE
     Route: 065
  53. AZATHIOPRINE [Suspect]
     Active Substance: AZATHIOPRINE
     Route: 065
  54. AZATHIOPRINE [Suspect]
     Active Substance: AZATHIOPRINE
     Route: 065
  55. AZATHIOPRINE [Suspect]
     Active Substance: AZATHIOPRINE
     Route: 065
  56. AZATHIOPRINE [Suspect]
     Active Substance: AZATHIOPRINE
     Route: 065
  57. AZATHIOPRINE [Suspect]
     Active Substance: AZATHIOPRINE
     Route: 065
  58. AZATHIOPRINE [Suspect]
     Active Substance: AZATHIOPRINE
     Route: 065
  59. AZATHIOPRINE [Suspect]
     Active Substance: AZATHIOPRINE
     Route: 065
  60. AZATHIOPRINE [Suspect]
     Active Substance: AZATHIOPRINE
     Route: 065
  61. AZATHIOPRINE [Suspect]
     Active Substance: AZATHIOPRINE
     Route: 065
  62. AZATHIOPRINE [Suspect]
     Active Substance: AZATHIOPRINE
     Route: 065
  63. AZATHIOPRINE [Suspect]
     Active Substance: AZATHIOPRINE
     Route: 065
  64. AZATHIOPRINE [Suspect]
     Active Substance: AZATHIOPRINE
     Route: 065
  65. AZATHIOPRINE [Suspect]
     Active Substance: AZATHIOPRINE
     Route: 065
  66. AZATHIOPRINE [Suspect]
     Active Substance: AZATHIOPRINE
     Route: 065
  67. AZATHIOPRINE [Suspect]
     Active Substance: AZATHIOPRINE
     Route: 065
  68. AZATHIOPRINE [Suspect]
     Active Substance: AZATHIOPRINE
     Route: 065
  69. AZATHIOPRINE [Suspect]
     Active Substance: AZATHIOPRINE
     Route: 065
  70. AZATHIOPRINE [Suspect]
     Active Substance: AZATHIOPRINE
     Route: 065
  71. AZATHIOPRINE [Suspect]
     Active Substance: AZATHIOPRINE
     Route: 065
  72. AZATHIOPRINE [Suspect]
     Active Substance: AZATHIOPRINE
     Route: 065
  73. AZATHIOPRINE [Suspect]
     Active Substance: AZATHIOPRINE
     Route: 065
  74. AZATHIOPRINE [Suspect]
     Active Substance: AZATHIOPRINE
     Route: 065
  75. AZATHIOPRINE [Suspect]
     Active Substance: AZATHIOPRINE
     Route: 065
  76. AZATHIOPRINE [Suspect]
     Active Substance: AZATHIOPRINE
     Route: 065
  77. AZATHIOPRINE [Suspect]
     Active Substance: AZATHIOPRINE
     Route: 065
  78. AZATHIOPRINE [Suspect]
     Active Substance: AZATHIOPRINE
     Route: 065
  79. AZATHIOPRINE [Suspect]
     Active Substance: AZATHIOPRINE
     Route: 065
  80. AZATHIOPRINE [Suspect]
     Active Substance: AZATHIOPRINE
     Route: 065
  81. AZATHIOPRINE [Suspect]
     Active Substance: AZATHIOPRINE
     Route: 065
  82. AZATHIOPRINE [Suspect]
     Active Substance: AZATHIOPRINE
     Route: 065
  83. AZATHIOPRINE [Suspect]
     Active Substance: AZATHIOPRINE
     Route: 065
  84. AZATHIOPRINE [Suspect]
     Active Substance: AZATHIOPRINE
     Route: 065
  85. AZATHIOPRINE [Suspect]
     Active Substance: AZATHIOPRINE
     Route: 065
  86. AZATHIOPRINE [Suspect]
     Active Substance: AZATHIOPRINE
     Route: 065
  87. AZATHIOPRINE [Suspect]
     Active Substance: AZATHIOPRINE
     Route: 065
  88. AZATHIOPRINE [Suspect]
     Active Substance: AZATHIOPRINE
     Route: 065
  89. AZATHIOPRINE [Suspect]
     Active Substance: AZATHIOPRINE
     Route: 065
  90. AZATHIOPRINE [Suspect]
     Active Substance: AZATHIOPRINE
     Route: 065
  91. AZATHIOPRINE [Suspect]
     Active Substance: AZATHIOPRINE
     Route: 065
  92. AZATHIOPRINE [Suspect]
     Active Substance: AZATHIOPRINE
     Route: 065
  93. AZATHIOPRINE [Suspect]
     Active Substance: AZATHIOPRINE
     Route: 065
  94. AZATHIOPRINE [Suspect]
     Active Substance: AZATHIOPRINE
     Route: 065
  95. AZATHIOPRINE [Suspect]
     Active Substance: AZATHIOPRINE
     Route: 065
  96. AZATHIOPRINE [Suspect]
     Active Substance: AZATHIOPRINE
     Route: 065
  97. AZATHIOPRINE [Suspect]
     Active Substance: AZATHIOPRINE
     Route: 065
  98. AZATHIOPRINE [Suspect]
     Active Substance: AZATHIOPRINE
     Route: 065
  99. AZATHIOPRINE [Suspect]
     Active Substance: AZATHIOPRINE
     Route: 065
  100. AZATHIOPRINE [Suspect]
     Active Substance: AZATHIOPRINE
     Route: 065
  101. AZATHIOPRINE [Suspect]
     Active Substance: AZATHIOPRINE
     Route: 065
  102. AZATHIOPRINE [Suspect]
     Active Substance: AZATHIOPRINE
     Route: 065
  103. AZATHIOPRINE [Suspect]
     Active Substance: AZATHIOPRINE
     Route: 065
  104. AZATHIOPRINE [Suspect]
     Active Substance: AZATHIOPRINE
     Route: 065
  105. AZATHIOPRINE [Suspect]
     Active Substance: AZATHIOPRINE
     Route: 065
  106. AZATHIOPRINE [Suspect]
     Active Substance: AZATHIOPRINE
     Route: 065
  107. AZATHIOPRINE [Suspect]
     Active Substance: AZATHIOPRINE
     Route: 065
  108. AZATHIOPRINE [Suspect]
     Active Substance: AZATHIOPRINE
     Route: 065
  109. AZATHIOPRINE [Suspect]
     Active Substance: AZATHIOPRINE
     Route: 065
  110. AZATHIOPRINE [Suspect]
     Active Substance: AZATHIOPRINE
     Route: 065
  111. AZATHIOPRINE [Suspect]
     Active Substance: AZATHIOPRINE
     Route: 065
  112. AZATHIOPRINE [Suspect]
     Active Substance: AZATHIOPRINE
     Route: 065
  113. AZATHIOPRINE [Suspect]
     Active Substance: AZATHIOPRINE
     Route: 065
  114. AZATHIOPRINE [Suspect]
     Active Substance: AZATHIOPRINE
     Route: 065
  115. AZATHIOPRINE [Suspect]
     Active Substance: AZATHIOPRINE
     Route: 065
  116. AZATHIOPRINE [Suspect]
     Active Substance: AZATHIOPRINE
     Route: 065
  117. AZATHIOPRINE [Suspect]
     Active Substance: AZATHIOPRINE
     Route: 065
  118. AZATHIOPRINE [Suspect]
     Active Substance: AZATHIOPRINE
     Route: 065
  119. AZATHIOPRINE [Suspect]
     Active Substance: AZATHIOPRINE
     Route: 065
  120. AZATHIOPRINE [Suspect]
     Active Substance: AZATHIOPRINE
     Route: 065
  121. AZATHIOPRINE [Suspect]
     Active Substance: AZATHIOPRINE
     Route: 065
  122. AZATHIOPRINE [Suspect]
     Active Substance: AZATHIOPRINE
     Route: 065
  123. AZATHIOPRINE [Suspect]
     Active Substance: AZATHIOPRINE
     Route: 065
  124. AZATHIOPRINE [Suspect]
     Active Substance: AZATHIOPRINE
     Route: 065
  125. AZATHIOPRINE [Suspect]
     Active Substance: AZATHIOPRINE
     Route: 065
  126. AZATHIOPRINE [Suspect]
     Active Substance: AZATHIOPRINE
     Route: 065
  127. AZATHIOPRINE [Suspect]
     Active Substance: AZATHIOPRINE
     Route: 065
  128. AZATHIOPRINE [Suspect]
     Active Substance: AZATHIOPRINE
     Route: 065
  129. AZATHIOPRINE [Suspect]
     Active Substance: AZATHIOPRINE
     Route: 065
  130. AZATHIOPRINE [Suspect]
     Active Substance: AZATHIOPRINE
     Route: 065
  131. AZATHIOPRINE [Suspect]
     Active Substance: AZATHIOPRINE
     Route: 065
  132. AZATHIOPRINE [Suspect]
     Active Substance: AZATHIOPRINE
     Route: 065
  133. AZATHIOPRINE [Suspect]
     Active Substance: AZATHIOPRINE
     Route: 065
  134. AZATHIOPRINE [Suspect]
     Active Substance: AZATHIOPRINE
     Route: 065
  135. AZATHIOPRINE [Suspect]
     Active Substance: AZATHIOPRINE
     Route: 065
  136. AZATHIOPRINE [Suspect]
     Active Substance: AZATHIOPRINE
     Route: 065
  137. AZATHIOPRINE [Suspect]
     Active Substance: AZATHIOPRINE
     Route: 065
  138. AZATHIOPRINE [Suspect]
     Active Substance: AZATHIOPRINE
     Route: 065
  139. AZATHIOPRINE [Suspect]
     Active Substance: AZATHIOPRINE
     Route: 065
  140. AZATHIOPRINE [Suspect]
     Active Substance: AZATHIOPRINE
     Route: 065
  141. AZATHIOPRINE [Suspect]
     Active Substance: AZATHIOPRINE
     Route: 065
  142. AZATHIOPRINE [Suspect]
     Active Substance: AZATHIOPRINE
     Route: 065
  143. AZATHIOPRINE [Suspect]
     Active Substance: AZATHIOPRINE
     Route: 065
  144. AZATHIOPRINE [Suspect]
     Active Substance: AZATHIOPRINE
     Route: 065
  145. AZATHIOPRINE [Suspect]
     Active Substance: AZATHIOPRINE
     Route: 065
  146. AZATHIOPRINE [Suspect]
     Active Substance: AZATHIOPRINE
     Route: 065
  147. AZATHIOPRINE [Suspect]
     Active Substance: AZATHIOPRINE
     Route: 065
  148. AZATHIOPRINE [Suspect]
     Active Substance: AZATHIOPRINE
     Route: 065
  149. AZATHIOPRINE [Suspect]
     Active Substance: AZATHIOPRINE
     Route: 065
  150. AZATHIOPRINE [Suspect]
     Active Substance: AZATHIOPRINE
     Route: 065
  151. AZATHIOPRINE [Suspect]
     Active Substance: AZATHIOPRINE
     Route: 065
  152. AZATHIOPRINE [Suspect]
     Active Substance: AZATHIOPRINE
     Route: 065
  153. AZATHIOPRINE [Suspect]
     Active Substance: AZATHIOPRINE
     Route: 065
  154. AZATHIOPRINE [Suspect]
     Active Substance: AZATHIOPRINE
     Route: 065
  155. AZATHIOPRINE [Suspect]
     Active Substance: AZATHIOPRINE
     Route: 065
  156. AZATHIOPRINE [Suspect]
     Active Substance: AZATHIOPRINE
     Route: 065
  157. AZATHIOPRINE [Suspect]
     Active Substance: AZATHIOPRINE
     Route: 065
  158. AZATHIOPRINE [Suspect]
     Active Substance: AZATHIOPRINE
     Route: 065
  159. AZATHIOPRINE [Suspect]
     Active Substance: AZATHIOPRINE
     Route: 065
  160. AZATHIOPRINE [Suspect]
     Active Substance: AZATHIOPRINE
     Route: 065
  161. AZATHIOPRINE [Suspect]
     Active Substance: AZATHIOPRINE
     Route: 065
  162. AZATHIOPRINE [Suspect]
     Active Substance: AZATHIOPRINE
     Route: 065
  163. AZATHIOPRINE [Suspect]
     Active Substance: AZATHIOPRINE
     Route: 065
  164. AZATHIOPRINE [Suspect]
     Active Substance: AZATHIOPRINE
     Route: 065
  165. AZATHIOPRINE [Suspect]
     Active Substance: AZATHIOPRINE
     Route: 065
  166. AZATHIOPRINE [Suspect]
     Active Substance: AZATHIOPRINE
     Route: 065
  167. AZATHIOPRINE [Suspect]
     Active Substance: AZATHIOPRINE
     Route: 065
  168. AZATHIOPRINE [Suspect]
     Active Substance: AZATHIOPRINE
     Route: 065
  169. AZATHIOPRINE [Suspect]
     Active Substance: AZATHIOPRINE
     Route: 065
  170. AZATHIOPRINE [Suspect]
     Active Substance: AZATHIOPRINE
     Route: 065
  171. AZATHIOPRINE [Suspect]
     Active Substance: AZATHIOPRINE
     Route: 065
  172. AZATHIOPRINE [Suspect]
     Active Substance: AZATHIOPRINE
     Route: 065
  173. AZATHIOPRINE [Suspect]
     Active Substance: AZATHIOPRINE
     Route: 065
  174. AZATHIOPRINE [Suspect]
     Active Substance: AZATHIOPRINE
     Route: 065
  175. AZATHIOPRINE [Suspect]
     Active Substance: AZATHIOPRINE
     Route: 065
  176. AZATHIOPRINE [Suspect]
     Active Substance: AZATHIOPRINE
     Route: 065
  177. AZATHIOPRINE [Suspect]
     Active Substance: AZATHIOPRINE
     Route: 065
  178. AZATHIOPRINE [Suspect]
     Active Substance: AZATHIOPRINE
     Route: 065
  179. AZATHIOPRINE [Suspect]
     Active Substance: AZATHIOPRINE
     Route: 065
  180. AZATHIOPRINE [Suspect]
     Active Substance: AZATHIOPRINE
     Route: 065
  181. AZATHIOPRINE [Suspect]
     Active Substance: AZATHIOPRINE
     Route: 065
  182. AZATHIOPRINE [Suspect]
     Active Substance: AZATHIOPRINE
     Route: 065
  183. AZATHIOPRINE [Suspect]
     Active Substance: AZATHIOPRINE
     Route: 065
  184. AZATHIOPRINE [Suspect]
     Active Substance: AZATHIOPRINE
     Route: 065
  185. AZATHIOPRINE [Suspect]
     Active Substance: AZATHIOPRINE
     Route: 065
  186. AZATHIOPRINE [Suspect]
     Active Substance: AZATHIOPRINE
     Route: 065
  187. AZATHIOPRINE [Suspect]
     Active Substance: AZATHIOPRINE
     Route: 065
  188. AZATHIOPRINE [Suspect]
     Active Substance: AZATHIOPRINE
     Route: 065
  189. AZATHIOPRINE [Suspect]
     Active Substance: AZATHIOPRINE
     Route: 065
  190. AZATHIOPRINE [Suspect]
     Active Substance: AZATHIOPRINE
     Route: 065
  191. AZATHIOPRINE [Suspect]
     Active Substance: AZATHIOPRINE
     Route: 065
  192. AZATHIOPRINE [Suspect]
     Active Substance: AZATHIOPRINE
     Route: 065
  193. AZATHIOPRINE [Suspect]
     Active Substance: AZATHIOPRINE
     Route: 065
  194. AZATHIOPRINE [Suspect]
     Active Substance: AZATHIOPRINE
     Route: 065
  195. AZATHIOPRINE [Suspect]
     Active Substance: AZATHIOPRINE
     Route: 065
  196. AZATHIOPRINE [Suspect]
     Active Substance: AZATHIOPRINE
     Route: 065
  197. AZATHIOPRINE [Suspect]
     Active Substance: AZATHIOPRINE
     Route: 065
  198. AZATHIOPRINE [Suspect]
     Active Substance: AZATHIOPRINE
     Route: 065
  199. AZATHIOPRINE [Suspect]
     Active Substance: AZATHIOPRINE
     Route: 065
  200. AZATHIOPRINE [Suspect]
     Active Substance: AZATHIOPRINE
     Route: 065
  201. AZATHIOPRINE [Suspect]
     Active Substance: AZATHIOPRINE
     Route: 065
  202. AZATHIOPRINE [Suspect]
     Active Substance: AZATHIOPRINE
     Route: 065
  203. AZATHIOPRINE [Suspect]
     Active Substance: AZATHIOPRINE
     Route: 065
  204. AZATHIOPRINE [Suspect]
     Active Substance: AZATHIOPRINE
     Route: 065
  205. AZATHIOPRINE [Suspect]
     Active Substance: AZATHIOPRINE
     Route: 065
  206. AZATHIOPRINE [Suspect]
     Active Substance: AZATHIOPRINE
     Route: 065
  207. AZATHIOPRINE [Suspect]
     Active Substance: AZATHIOPRINE
     Route: 065
  208. AZATHIOPRINE [Suspect]
     Active Substance: AZATHIOPRINE
     Route: 065
  209. AZATHIOPRINE [Suspect]
     Active Substance: AZATHIOPRINE
     Route: 065
  210. AZATHIOPRINE [Suspect]
     Active Substance: AZATHIOPRINE
     Route: 065
  211. AZATHIOPRINE [Suspect]
     Active Substance: AZATHIOPRINE
     Route: 065
  212. AZATHIOPRINE [Suspect]
     Active Substance: AZATHIOPRINE
     Route: 065
  213. AZATHIOPRINE [Suspect]
     Active Substance: AZATHIOPRINE
     Route: 065
  214. AZATHIOPRINE [Suspect]
     Active Substance: AZATHIOPRINE
     Route: 065
  215. AZATHIOPRINE [Suspect]
     Active Substance: AZATHIOPRINE
     Route: 065
  216. AZATHIOPRINE [Suspect]
     Active Substance: AZATHIOPRINE
     Route: 065
  217. AZATHIOPRINE [Suspect]
     Active Substance: AZATHIOPRINE
     Route: 065
  218. AZATHIOPRINE [Suspect]
     Active Substance: AZATHIOPRINE
     Route: 065
  219. AZATHIOPRINE [Suspect]
     Active Substance: AZATHIOPRINE
     Route: 065
  220. AZATHIOPRINE [Suspect]
     Active Substance: AZATHIOPRINE
     Route: 065
  221. AZATHIOPRINE [Suspect]
     Active Substance: AZATHIOPRINE
     Route: 065
  222. AZATHIOPRINE [Suspect]
     Active Substance: AZATHIOPRINE
     Route: 065
  223. AZATHIOPRINE [Suspect]
     Active Substance: AZATHIOPRINE
     Route: 065
  224. AZATHIOPRINE [Suspect]
     Active Substance: AZATHIOPRINE
     Route: 065
  225. AZATHIOPRINE [Suspect]
     Active Substance: AZATHIOPRINE
     Route: 065
  226. AZATHIOPRINE [Suspect]
     Active Substance: AZATHIOPRINE
     Route: 065
  227. AZATHIOPRINE [Suspect]
     Active Substance: AZATHIOPRINE
     Route: 065
  228. AZATHIOPRINE [Suspect]
     Active Substance: AZATHIOPRINE
     Route: 065
  229. AZATHIOPRINE [Suspect]
     Active Substance: AZATHIOPRINE
     Route: 065
  230. AZATHIOPRINE [Suspect]
     Active Substance: AZATHIOPRINE
     Route: 065
  231. AZATHIOPRINE [Suspect]
     Active Substance: AZATHIOPRINE
     Route: 065
  232. AZATHIOPRINE [Suspect]
     Active Substance: AZATHIOPRINE
     Route: 065
  233. AZATHIOPRINE [Suspect]
     Active Substance: AZATHIOPRINE
     Route: 065
  234. AZATHIOPRINE [Suspect]
     Active Substance: AZATHIOPRINE
     Route: 065
  235. AZATHIOPRINE [Suspect]
     Active Substance: AZATHIOPRINE
     Route: 065
  236. AZATHIOPRINE [Suspect]
     Active Substance: AZATHIOPRINE
     Route: 065
  237. AZATHIOPRINE [Suspect]
     Active Substance: AZATHIOPRINE
     Route: 065
  238. AZATHIOPRINE [Suspect]
     Active Substance: AZATHIOPRINE
     Route: 065
  239. AZATHIOPRINE [Suspect]
     Active Substance: AZATHIOPRINE
     Route: 065
  240. AZATHIOPRINE [Suspect]
     Active Substance: AZATHIOPRINE
     Route: 065
  241. AZATHIOPRINE [Suspect]
     Active Substance: AZATHIOPRINE
     Route: 065
  242. AZATHIOPRINE [Suspect]
     Active Substance: AZATHIOPRINE
     Route: 065
  243. AZATHIOPRINE [Suspect]
     Active Substance: AZATHIOPRINE
     Route: 065
  244. AZATHIOPRINE [Suspect]
     Active Substance: AZATHIOPRINE
     Route: 065
  245. AZATHIOPRINE [Suspect]
     Active Substance: AZATHIOPRINE
     Route: 065
  246. AZATHIOPRINE [Suspect]
     Active Substance: AZATHIOPRINE
     Route: 065
  247. AZATHIOPRINE [Suspect]
     Active Substance: AZATHIOPRINE
     Route: 065
  248. AZATHIOPRINE [Suspect]
     Active Substance: AZATHIOPRINE
     Route: 065
  249. AZATHIOPRINE [Suspect]
     Active Substance: AZATHIOPRINE
     Route: 065
  250. AZATHIOPRINE [Suspect]
     Active Substance: AZATHIOPRINE
     Route: 065
  251. AZATHIOPRINE [Suspect]
     Active Substance: AZATHIOPRINE
     Route: 065
  252. AZATHIOPRINE [Suspect]
     Active Substance: AZATHIOPRINE
     Route: 065
  253. AZATHIOPRINE [Suspect]
     Active Substance: AZATHIOPRINE
     Route: 065
  254. AZATHIOPRINE [Suspect]
     Active Substance: AZATHIOPRINE
     Route: 065
  255. AZATHIOPRINE [Suspect]
     Active Substance: AZATHIOPRINE
     Route: 065
  256. AZATHIOPRINE [Suspect]
     Active Substance: AZATHIOPRINE
     Route: 065
  257. AZATHIOPRINE [Suspect]
     Active Substance: AZATHIOPRINE
     Route: 065
  258. AZATHIOPRINE [Suspect]
     Active Substance: AZATHIOPRINE
     Route: 065
  259. AZATHIOPRINE [Suspect]
     Active Substance: AZATHIOPRINE
     Route: 065
  260. AZATHIOPRINE [Suspect]
     Active Substance: AZATHIOPRINE
     Route: 065
  261. AZATHIOPRINE [Suspect]
     Active Substance: AZATHIOPRINE
     Route: 065
  262. AZATHIOPRINE [Suspect]
     Active Substance: AZATHIOPRINE
     Route: 065
  263. AZATHIOPRINE [Suspect]
     Active Substance: AZATHIOPRINE
     Route: 065
  264. AZATHIOPRINE [Suspect]
     Active Substance: AZATHIOPRINE
     Route: 065
  265. AZATHIOPRINE [Suspect]
     Active Substance: AZATHIOPRINE
     Route: 065
  266. AZATHIOPRINE [Suspect]
     Active Substance: AZATHIOPRINE
     Route: 065
  267. AZATHIOPRINE [Suspect]
     Active Substance: AZATHIOPRINE
     Route: 065
  268. AZATHIOPRINE [Suspect]
     Active Substance: AZATHIOPRINE
     Route: 065
  269. AZATHIOPRINE [Suspect]
     Active Substance: AZATHIOPRINE
     Route: 065
  270. AZATHIOPRINE [Suspect]
     Active Substance: AZATHIOPRINE
     Route: 065
  271. AZATHIOPRINE [Suspect]
     Active Substance: AZATHIOPRINE
     Route: 065
  272. AZATHIOPRINE [Suspect]
     Active Substance: AZATHIOPRINE
     Route: 065
  273. AZATHIOPRINE [Suspect]
     Active Substance: AZATHIOPRINE
     Route: 065
  274. AZATHIOPRINE [Suspect]
     Active Substance: AZATHIOPRINE
     Route: 065
  275. AZATHIOPRINE [Suspect]
     Active Substance: AZATHIOPRINE
     Route: 065
  276. AZATHIOPRINE [Suspect]
     Active Substance: AZATHIOPRINE
     Route: 065
  277. AZATHIOPRINE [Suspect]
     Active Substance: AZATHIOPRINE
     Route: 065
  278. AZATHIOPRINE [Suspect]
     Active Substance: AZATHIOPRINE
     Route: 065
  279. AZATHIOPRINE [Suspect]
     Active Substance: AZATHIOPRINE
     Route: 065
  280. AZATHIOPRINE [Suspect]
     Active Substance: AZATHIOPRINE
     Route: 065
  281. AZATHIOPRINE [Suspect]
     Active Substance: AZATHIOPRINE
     Route: 065
  282. AZATHIOPRINE [Suspect]
     Active Substance: AZATHIOPRINE
     Route: 065
  283. AZATHIOPRINE [Suspect]
     Active Substance: AZATHIOPRINE
     Route: 065
  284. AZATHIOPRINE [Suspect]
     Active Substance: AZATHIOPRINE
     Route: 065
  285. AZATHIOPRINE [Suspect]
     Active Substance: AZATHIOPRINE
     Route: 065
  286. AZATHIOPRINE [Suspect]
     Active Substance: AZATHIOPRINE
     Route: 065
  287. AZATHIOPRINE [Suspect]
     Active Substance: AZATHIOPRINE
     Route: 065
  288. AZATHIOPRINE [Suspect]
     Active Substance: AZATHIOPRINE
     Route: 065
  289. AZATHIOPRINE [Suspect]
     Active Substance: AZATHIOPRINE
     Route: 065
  290. AZATHIOPRINE [Suspect]
     Active Substance: AZATHIOPRINE
     Route: 065
  291. AZATHIOPRINE [Suspect]
     Active Substance: AZATHIOPRINE
     Route: 065
  292. AZATHIOPRINE [Suspect]
     Active Substance: AZATHIOPRINE
     Route: 065
  293. AZATHIOPRINE [Suspect]
     Active Substance: AZATHIOPRINE
     Route: 065
  294. AZATHIOPRINE [Suspect]
     Active Substance: AZATHIOPRINE
     Route: 065
  295. AZATHIOPRINE [Suspect]
     Active Substance: AZATHIOPRINE
     Route: 065
  296. AZATHIOPRINE [Suspect]
     Active Substance: AZATHIOPRINE
     Route: 065
  297. AZATHIOPRINE [Suspect]
     Active Substance: AZATHIOPRINE
     Route: 065
  298. AZATHIOPRINE [Suspect]
     Active Substance: AZATHIOPRINE
     Route: 065
  299. AZATHIOPRINE [Suspect]
     Active Substance: AZATHIOPRINE
     Route: 065
  300. AZATHIOPRINE [Suspect]
     Active Substance: AZATHIOPRINE
     Route: 065
  301. AZATHIOPRINE [Suspect]
     Active Substance: AZATHIOPRINE
     Route: 065
  302. AZATHIOPRINE [Suspect]
     Active Substance: AZATHIOPRINE
     Route: 065
  303. AZATHIOPRINE [Suspect]
     Active Substance: AZATHIOPRINE
     Route: 065
  304. AZATHIOPRINE [Suspect]
     Active Substance: AZATHIOPRINE
     Route: 065
  305. AZATHIOPRINE [Suspect]
     Active Substance: AZATHIOPRINE
     Route: 065
  306. AZATHIOPRINE [Suspect]
     Active Substance: AZATHIOPRINE
     Route: 065
  307. AZATHIOPRINE [Suspect]
     Active Substance: AZATHIOPRINE
     Route: 065
  308. AZATHIOPRINE [Suspect]
     Active Substance: AZATHIOPRINE
     Route: 065
  309. AZATHIOPRINE [Suspect]
     Active Substance: AZATHIOPRINE
     Route: 065
  310. AZATHIOPRINE [Suspect]
     Active Substance: AZATHIOPRINE
     Route: 065
  311. AZATHIOPRINE [Suspect]
     Active Substance: AZATHIOPRINE
     Route: 065
  312. AZATHIOPRINE [Suspect]
     Active Substance: AZATHIOPRINE
     Route: 065
  313. AZATHIOPRINE [Suspect]
     Active Substance: AZATHIOPRINE
     Route: 065
  314. AZATHIOPRINE [Suspect]
     Active Substance: AZATHIOPRINE
     Route: 065
  315. AZATHIOPRINE [Suspect]
     Active Substance: AZATHIOPRINE
     Route: 065
  316. AZATHIOPRINE [Suspect]
     Active Substance: AZATHIOPRINE
     Route: 065
  317. AZATHIOPRINE [Suspect]
     Active Substance: AZATHIOPRINE
     Route: 065
  318. AZATHIOPRINE [Suspect]
     Active Substance: AZATHIOPRINE
     Route: 065
  319. AZATHIOPRINE [Suspect]
     Active Substance: AZATHIOPRINE
     Route: 065
  320. AZATHIOPRINE [Suspect]
     Active Substance: AZATHIOPRINE
     Route: 065
  321. AZATHIOPRINE [Suspect]
     Active Substance: AZATHIOPRINE
     Route: 065
  322. AZATHIOPRINE [Suspect]
     Active Substance: AZATHIOPRINE
     Route: 065
  323. AZATHIOPRINE [Suspect]
     Active Substance: AZATHIOPRINE
     Route: 065
  324. AZATHIOPRINE [Suspect]
     Active Substance: AZATHIOPRINE
     Route: 065
  325. AZATHIOPRINE [Suspect]
     Active Substance: AZATHIOPRINE
     Route: 065
  326. AZATHIOPRINE [Suspect]
     Active Substance: AZATHIOPRINE
     Route: 065
  327. AZATHIOPRINE [Suspect]
     Active Substance: AZATHIOPRINE
     Route: 065
  328. AZATHIOPRINE [Suspect]
     Active Substance: AZATHIOPRINE
     Route: 065
  329. AZATHIOPRINE [Suspect]
     Active Substance: AZATHIOPRINE
     Route: 065
  330. AZATHIOPRINE [Suspect]
     Active Substance: AZATHIOPRINE
     Route: 065
  331. AZATHIOPRINE [Suspect]
     Active Substance: AZATHIOPRINE
     Route: 065
  332. AZATHIOPRINE [Suspect]
     Active Substance: AZATHIOPRINE
     Route: 065
  333. AZATHIOPRINE [Suspect]
     Active Substance: AZATHIOPRINE
     Route: 065
  334. AZATHIOPRINE [Suspect]
     Active Substance: AZATHIOPRINE
     Route: 065
  335. AZATHIOPRINE [Suspect]
     Active Substance: AZATHIOPRINE
     Route: 065
  336. AZATHIOPRINE [Suspect]
     Active Substance: AZATHIOPRINE
     Route: 065
  337. AZATHIOPRINE [Suspect]
     Active Substance: AZATHIOPRINE
     Route: 065
  338. AZATHIOPRINE [Suspect]
     Active Substance: AZATHIOPRINE
     Route: 065
  339. AZATHIOPRINE [Suspect]
     Active Substance: AZATHIOPRINE
     Route: 065
  340. AZATHIOPRINE [Suspect]
     Active Substance: AZATHIOPRINE
     Route: 065
  341. AZATHIOPRINE [Suspect]
     Active Substance: AZATHIOPRINE
     Route: 065
  342. AZATHIOPRINE [Suspect]
     Active Substance: AZATHIOPRINE
     Route: 065
  343. AZATHIOPRINE [Suspect]
     Active Substance: AZATHIOPRINE
     Route: 065
  344. AZATHIOPRINE [Suspect]
     Active Substance: AZATHIOPRINE
     Route: 065
  345. AZATHIOPRINE [Suspect]
     Active Substance: AZATHIOPRINE
     Route: 065
  346. AZATHIOPRINE [Suspect]
     Active Substance: AZATHIOPRINE
     Route: 065
  347. AZATHIOPRINE [Suspect]
     Active Substance: AZATHIOPRINE
     Route: 065
  348. AZATHIOPRINE [Suspect]
     Active Substance: AZATHIOPRINE
     Route: 065
  349. AZATHIOPRINE [Suspect]
     Active Substance: AZATHIOPRINE
     Route: 065
  350. AZATHIOPRINE [Suspect]
     Active Substance: AZATHIOPRINE
     Route: 065
  351. AZATHIOPRINE [Suspect]
     Active Substance: AZATHIOPRINE
     Route: 065
  352. AZATHIOPRINE [Suspect]
     Active Substance: AZATHIOPRINE
     Route: 065
  353. AZATHIOPRINE [Suspect]
     Active Substance: AZATHIOPRINE
     Route: 065
  354. AZATHIOPRINE [Suspect]
     Active Substance: AZATHIOPRINE
     Route: 065
  355. AZATHIOPRINE [Suspect]
     Active Substance: AZATHIOPRINE
     Route: 065
  356. AZATHIOPRINE [Suspect]
     Active Substance: AZATHIOPRINE
     Route: 065
  357. AZATHIOPRINE [Suspect]
     Active Substance: AZATHIOPRINE
     Route: 065
  358. AZATHIOPRINE [Suspect]
     Active Substance: AZATHIOPRINE
     Route: 065
  359. AZATHIOPRINE [Suspect]
     Active Substance: AZATHIOPRINE
     Route: 065
  360. AZATHIOPRINE [Suspect]
     Active Substance: AZATHIOPRINE
     Route: 065
  361. AZATHIOPRINE [Suspect]
     Active Substance: AZATHIOPRINE
     Route: 065
  362. AZATHIOPRINE [Suspect]
     Active Substance: AZATHIOPRINE
     Route: 065
  363. AZATHIOPRINE [Suspect]
     Active Substance: AZATHIOPRINE
     Indication: Product used for unknown indication
     Route: 065
  364. AZATHIOPRINE [Suspect]
     Active Substance: AZATHIOPRINE
     Route: 065
  365. AZATHIOPRINE [Suspect]
     Active Substance: AZATHIOPRINE
     Route: 065
  366. AZATHIOPRINE [Suspect]
     Active Substance: AZATHIOPRINE
     Route: 065
  367. AZATHIOPRINE [Suspect]
     Active Substance: AZATHIOPRINE
     Route: 065
  368. AZATHIOPRINE [Suspect]
     Active Substance: AZATHIOPRINE
     Route: 065
  369. AZATHIOPRINE [Suspect]
     Active Substance: AZATHIOPRINE
     Route: 065
  370. AZATHIOPRINE [Suspect]
     Active Substance: AZATHIOPRINE
     Route: 065
  371. AZATHIOPRINE [Suspect]
     Active Substance: AZATHIOPRINE
     Route: 065
  372. AZATHIOPRINE [Suspect]
     Active Substance: AZATHIOPRINE
     Route: 065
  373. AZATHIOPRINE [Suspect]
     Active Substance: AZATHIOPRINE
     Route: 065
  374. AZATHIOPRINE [Suspect]
     Active Substance: AZATHIOPRINE
     Route: 065
  375. AZATHIOPRINE [Suspect]
     Active Substance: AZATHIOPRINE
     Route: 065
  376. AZATHIOPRINE [Suspect]
     Active Substance: AZATHIOPRINE
     Route: 065
  377. AZATHIOPRINE [Suspect]
     Active Substance: AZATHIOPRINE
     Route: 065
  378. AZATHIOPRINE [Suspect]
     Active Substance: AZATHIOPRINE
     Route: 065
  379. AZATHIOPRINE [Suspect]
     Active Substance: AZATHIOPRINE
     Route: 065
  380. AZATHIOPRINE [Suspect]
     Active Substance: AZATHIOPRINE
     Route: 065
  381. AZATHIOPRINE [Suspect]
     Active Substance: AZATHIOPRINE
     Route: 065
  382. AZATHIOPRINE [Suspect]
     Active Substance: AZATHIOPRINE
     Route: 065
  383. AZATHIOPRINE [Suspect]
     Active Substance: AZATHIOPRINE
     Route: 065
  384. AZATHIOPRINE [Suspect]
     Active Substance: AZATHIOPRINE
     Route: 065
  385. AZATHIOPRINE [Suspect]
     Active Substance: AZATHIOPRINE
     Route: 065
  386. AZATHIOPRINE [Suspect]
     Active Substance: AZATHIOPRINE
     Route: 065
  387. AZATHIOPRINE [Suspect]
     Active Substance: AZATHIOPRINE
     Route: 065
  388. AZATHIOPRINE [Suspect]
     Active Substance: AZATHIOPRINE
     Route: 065
  389. AZATHIOPRINE [Suspect]
     Active Substance: AZATHIOPRINE
     Route: 065
  390. AZATHIOPRINE [Suspect]
     Active Substance: AZATHIOPRINE
     Route: 065
  391. AZATHIOPRINE [Suspect]
     Active Substance: AZATHIOPRINE
     Route: 065
  392. AZATHIOPRINE [Suspect]
     Active Substance: AZATHIOPRINE
     Route: 065
  393. AZATHIOPRINE [Suspect]
     Active Substance: AZATHIOPRINE
     Route: 065
  394. AZATHIOPRINE [Suspect]
     Active Substance: AZATHIOPRINE
     Route: 065
  395. AZATHIOPRINE [Suspect]
     Active Substance: AZATHIOPRINE
     Route: 065
  396. AZATHIOPRINE [Suspect]
     Active Substance: AZATHIOPRINE
     Route: 065
  397. AZATHIOPRINE [Suspect]
     Active Substance: AZATHIOPRINE
     Route: 065
  398. AZATHIOPRINE [Suspect]
     Active Substance: AZATHIOPRINE
     Route: 065
  399. AZATHIOPRINE [Suspect]
     Active Substance: AZATHIOPRINE
     Route: 065
  400. AZATHIOPRINE [Suspect]
     Active Substance: AZATHIOPRINE
     Route: 065
  401. AZATHIOPRINE [Suspect]
     Active Substance: AZATHIOPRINE
     Route: 065
  402. AZATHIOPRINE [Suspect]
     Active Substance: AZATHIOPRINE
     Route: 065
  403. AZATHIOPRINE [Suspect]
     Active Substance: AZATHIOPRINE
     Route: 065
  404. AZATHIOPRINE [Suspect]
     Active Substance: AZATHIOPRINE
     Route: 065
  405. AZATHIOPRINE [Suspect]
     Active Substance: AZATHIOPRINE
     Route: 065
  406. AZATHIOPRINE [Suspect]
     Active Substance: AZATHIOPRINE
     Route: 065
  407. AZATHIOPRINE [Suspect]
     Active Substance: AZATHIOPRINE
     Route: 065
  408. AZATHIOPRINE [Suspect]
     Active Substance: AZATHIOPRINE
     Route: 065
  409. AZATHIOPRINE [Suspect]
     Active Substance: AZATHIOPRINE
     Route: 065
  410. AZATHIOPRINE [Suspect]
     Active Substance: AZATHIOPRINE
     Route: 065
  411. AZATHIOPRINE [Suspect]
     Active Substance: AZATHIOPRINE
     Route: 065
  412. AZATHIOPRINE [Suspect]
     Active Substance: AZATHIOPRINE
     Route: 065
  413. CYCLOSPORINE [Suspect]
     Active Substance: CYCLOSPORINE
     Route: 065
  414. CYCLOSPORINE [Suspect]
     Active Substance: CYCLOSPORINE
     Route: 065
  415. CYCLOSPORINE [Suspect]
     Active Substance: CYCLOSPORINE
     Route: 065
  416. CYCLOSPORINE [Suspect]
     Active Substance: CYCLOSPORINE
     Route: 065
  417. CYCLOSPORINE [Suspect]
     Active Substance: CYCLOSPORINE
     Route: 065
  418. CYCLOSPORINE [Suspect]
     Active Substance: CYCLOSPORINE
     Route: 065
  419. CYCLOSPORINE [Suspect]
     Active Substance: CYCLOSPORINE
     Route: 065
  420. CYCLOSPORINE [Suspect]
     Active Substance: CYCLOSPORINE
     Route: 065
  421. CYCLOSPORINE [Suspect]
     Active Substance: CYCLOSPORINE
     Route: 065
  422. CYCLOSPORINE [Suspect]
     Active Substance: CYCLOSPORINE
     Route: 065
  423. CYCLOSPORINE [Suspect]
     Active Substance: CYCLOSPORINE
     Route: 065
  424. CYCLOSPORINE [Suspect]
     Active Substance: CYCLOSPORINE
     Route: 065
  425. CYCLOSPORINE [Suspect]
     Active Substance: CYCLOSPORINE
     Route: 065
  426. CYCLOSPORINE [Suspect]
     Active Substance: CYCLOSPORINE
     Route: 065
  427. CYCLOSPORINE [Suspect]
     Active Substance: CYCLOSPORINE
     Route: 065
  428. CYCLOSPORINE [Suspect]
     Active Substance: CYCLOSPORINE
     Route: 065
  429. CYCLOSPORINE [Suspect]
     Active Substance: CYCLOSPORINE
     Route: 065
  430. CYCLOSPORINE [Suspect]
     Active Substance: CYCLOSPORINE
     Route: 065
  431. CYCLOSPORINE [Suspect]
     Active Substance: CYCLOSPORINE
     Route: 065
  432. CYCLOSPORINE [Suspect]
     Active Substance: CYCLOSPORINE
     Route: 065
  433. CYCLOSPORINE [Suspect]
     Active Substance: CYCLOSPORINE
     Route: 065
  434. CYCLOSPORINE [Suspect]
     Active Substance: CYCLOSPORINE
     Route: 065
  435. CYCLOSPORINE [Suspect]
     Active Substance: CYCLOSPORINE
     Route: 065
  436. CYCLOSPORINE [Suspect]
     Active Substance: CYCLOSPORINE
     Route: 065
  437. CYCLOSPORINE [Suspect]
     Active Substance: CYCLOSPORINE
     Route: 065
  438. CYCLOSPORINE [Suspect]
     Active Substance: CYCLOSPORINE
     Route: 065
  439. CYCLOSPORINE [Suspect]
     Active Substance: CYCLOSPORINE
     Route: 065
  440. CYCLOSPORINE [Suspect]
     Active Substance: CYCLOSPORINE
     Route: 065
  441. CYCLOSPORINE [Suspect]
     Active Substance: CYCLOSPORINE
     Route: 065
  442. CYCLOSPORINE [Suspect]
     Active Substance: CYCLOSPORINE
     Route: 065
  443. CYCLOSPORINE [Suspect]
     Active Substance: CYCLOSPORINE
     Route: 065
  444. CYCLOSPORINE [Suspect]
     Active Substance: CYCLOSPORINE
     Route: 065
  445. CYCLOSPORINE [Suspect]
     Active Substance: CYCLOSPORINE
     Route: 065
  446. CYCLOSPORINE [Suspect]
     Active Substance: CYCLOSPORINE
     Route: 065
  447. CYCLOSPORINE [Suspect]
     Active Substance: CYCLOSPORINE
     Route: 065
  448. CYCLOSPORINE [Suspect]
     Active Substance: CYCLOSPORINE
     Route: 065
  449. CYCLOSPORINE [Suspect]
     Active Substance: CYCLOSPORINE
     Route: 065
  450. CYCLOSPORINE [Suspect]
     Active Substance: CYCLOSPORINE
     Route: 065
  451. CYCLOSPORINE [Suspect]
     Active Substance: CYCLOSPORINE
     Route: 065
  452. CYCLOSPORINE [Suspect]
     Active Substance: CYCLOSPORINE
     Route: 065
  453. CYCLOSPORINE [Suspect]
     Active Substance: CYCLOSPORINE
     Route: 065
  454. CYCLOSPORINE [Suspect]
     Active Substance: CYCLOSPORINE
     Route: 065
  455. CYCLOSPORINE [Suspect]
     Active Substance: CYCLOSPORINE
     Route: 065
  456. CYCLOSPORINE [Suspect]
     Active Substance: CYCLOSPORINE
     Route: 065
  457. CYCLOSPORINE [Suspect]
     Active Substance: CYCLOSPORINE
     Route: 065
  458. CYCLOSPORINE [Suspect]
     Active Substance: CYCLOSPORINE
     Route: 065
  459. CYCLOSPORINE [Suspect]
     Active Substance: CYCLOSPORINE
     Route: 065
  460. CYCLOSPORINE [Suspect]
     Active Substance: CYCLOSPORINE
     Indication: Product used for unknown indication
     Route: 065
  461. CYCLOSPORINE [Suspect]
     Active Substance: CYCLOSPORINE
     Route: 065
  462. CYCLOSPORINE [Suspect]
     Active Substance: CYCLOSPORINE
     Route: 065
  463. CYCLOSPORINE [Suspect]
     Active Substance: CYCLOSPORINE
     Route: 065
  464. DAPSONE [Suspect]
     Active Substance: DAPSONE
     Indication: Antiphospholipid syndrome
     Route: 065
  465. DAPSONE [Suspect]
     Active Substance: DAPSONE
     Route: 065
  466. DAPSONE [Suspect]
     Active Substance: DAPSONE
     Route: 065
  467. DAPSONE [Suspect]
     Active Substance: DAPSONE
     Route: 065
  468. DAPSONE [Suspect]
     Active Substance: DAPSONE
     Route: 065
  469. DAPSONE [Suspect]
     Active Substance: DAPSONE
     Route: 065
  470. DAPSONE [Suspect]
     Active Substance: DAPSONE
     Route: 065
  471. DAPSONE [Suspect]
     Active Substance: DAPSONE
     Route: 065
  472. DAPSONE [Suspect]
     Active Substance: DAPSONE
     Route: 065
  473. DAPSONE [Suspect]
     Active Substance: DAPSONE
     Route: 065
  474. DAPSONE [Suspect]
     Active Substance: DAPSONE
     Route: 065
  475. DAPSONE [Suspect]
     Active Substance: DAPSONE
     Route: 065
  476. DAPSONE [Suspect]
     Active Substance: DAPSONE
     Route: 065
  477. DAPSONE [Suspect]
     Active Substance: DAPSONE
     Route: 065
  478. DAPSONE [Suspect]
     Active Substance: DAPSONE
     Route: 065
  479. DAPSONE [Suspect]
     Active Substance: DAPSONE
     Route: 065
  480. DAPSONE [Suspect]
     Active Substance: DAPSONE
     Route: 065
  481. DAPSONE [Suspect]
     Active Substance: DAPSONE
     Route: 065
  482. DAPSONE [Suspect]
     Active Substance: DAPSONE
     Route: 065
  483. DAPSONE [Suspect]
     Active Substance: DAPSONE
     Route: 065
  484. DAPSONE [Suspect]
     Active Substance: DAPSONE
     Route: 065
  485. DAPSONE [Suspect]
     Active Substance: DAPSONE
     Route: 065
  486. DAPSONE [Suspect]
     Active Substance: DAPSONE
     Route: 065
  487. DAPSONE [Suspect]
     Active Substance: DAPSONE
     Route: 065
  488. DAPSONE [Suspect]
     Active Substance: DAPSONE
     Route: 065
  489. DAPSONE [Suspect]
     Active Substance: DAPSONE
     Route: 065
  490. DAPSONE [Suspect]
     Active Substance: DAPSONE
     Route: 065
  491. DAPSONE [Suspect]
     Active Substance: DAPSONE
     Route: 065
  492. DAPSONE [Suspect]
     Active Substance: DAPSONE
     Route: 065
  493. DAPSONE [Suspect]
     Active Substance: DAPSONE
     Route: 065
  494. DAPSONE [Suspect]
     Active Substance: DAPSONE
     Route: 065
  495. DAPSONE [Suspect]
     Active Substance: DAPSONE
     Route: 065
  496. DAPSONE [Suspect]
     Active Substance: DAPSONE
     Route: 065
  497. DAPSONE [Suspect]
     Active Substance: DAPSONE
     Route: 065
  498. DAPSONE [Suspect]
     Active Substance: DAPSONE
     Route: 065
  499. DAPSONE [Suspect]
     Active Substance: DAPSONE
     Route: 065
  500. DAPSONE [Suspect]
     Active Substance: DAPSONE
     Route: 065
  501. DAPSONE [Suspect]
     Active Substance: DAPSONE
     Route: 065
  502. DAPSONE [Suspect]
     Active Substance: DAPSONE
     Route: 065
  503. DAPSONE [Suspect]
     Active Substance: DAPSONE
     Route: 065
  504. DAPSONE [Suspect]
     Active Substance: DAPSONE
     Route: 065
  505. DAPSONE [Suspect]
     Active Substance: DAPSONE
     Route: 065
  506. DAPSONE [Suspect]
     Active Substance: DAPSONE
     Route: 065
  507. DAPSONE [Suspect]
     Active Substance: DAPSONE
     Route: 065
  508. DAPSONE [Suspect]
     Active Substance: DAPSONE
     Route: 065
  509. DAPSONE [Suspect]
     Active Substance: DAPSONE
     Route: 065
  510. DAPSONE [Suspect]
     Active Substance: DAPSONE
     Route: 065
  511. DAPSONE [Suspect]
     Active Substance: DAPSONE
     Route: 065
  512. DAPSONE [Suspect]
     Active Substance: DAPSONE
     Route: 065
  513. DAPSONE [Suspect]
     Active Substance: DAPSONE
     Route: 065
  514. DAPSONE [Suspect]
     Active Substance: DAPSONE
     Route: 065
  515. IMURAN [Suspect]
     Active Substance: AZATHIOPRINE
     Route: 065
  516. IMURAN [Suspect]
     Active Substance: AZATHIOPRINE
     Route: 065
  517. IMURAN [Suspect]
     Active Substance: AZATHIOPRINE
     Route: 065
  518. IMURAN [Suspect]
     Active Substance: AZATHIOPRINE
     Route: 065
  519. IMURAN [Suspect]
     Active Substance: AZATHIOPRINE
     Route: 065
  520. IMURAN [Suspect]
     Active Substance: AZATHIOPRINE
     Route: 065
  521. IMURAN [Suspect]
     Active Substance: AZATHIOPRINE
     Route: 065
  522. IMURAN [Suspect]
     Active Substance: AZATHIOPRINE
     Route: 065
  523. IMURAN [Suspect]
     Active Substance: AZATHIOPRINE
     Route: 065
  524. IMURAN [Suspect]
     Active Substance: AZATHIOPRINE
     Route: 065
  525. IMURAN [Suspect]
     Active Substance: AZATHIOPRINE
     Route: 065
  526. IMURAN [Suspect]
     Active Substance: AZATHIOPRINE
     Route: 065
  527. IMURAN [Suspect]
     Active Substance: AZATHIOPRINE
     Indication: Chronic spontaneous urticaria
     Route: 065
  528. IMURAN [Suspect]
     Active Substance: AZATHIOPRINE
     Route: 065
  529. MYCOPHENOLATE MOFETIL [Suspect]
     Active Substance: MYCOPHENOLATE MOFETIL
     Indication: Product used for unknown indication
     Route: 065
  530. MYCOPHENOLATE MOFETIL [Suspect]
     Active Substance: MYCOPHENOLATE MOFETIL
     Route: 065
  531. MYCOPHENOLATE MOFETIL [Suspect]
     Active Substance: MYCOPHENOLATE MOFETIL
     Route: 065
  532. MYCOPHENOLATE MOFETIL [Suspect]
     Active Substance: MYCOPHENOLATE MOFETIL
     Route: 065
  533. MYCOPHENOLATE MOFETIL [Suspect]
     Active Substance: MYCOPHENOLATE MOFETIL
     Route: 065
  534. MYCOPHENOLATE MOFETIL [Suspect]
     Active Substance: MYCOPHENOLATE MOFETIL
     Route: 065
  535. MYCOPHENOLATE MOFETIL [Suspect]
     Active Substance: MYCOPHENOLATE MOFETIL
     Route: 065
  536. MYCOPHENOLATE MOFETIL [Suspect]
     Active Substance: MYCOPHENOLATE MOFETIL
     Route: 065
  537. MYCOPHENOLATE MOFETIL [Suspect]
     Active Substance: MYCOPHENOLATE MOFETIL
     Route: 065
  538. MYCOPHENOLATE MOFETIL [Suspect]
     Active Substance: MYCOPHENOLATE MOFETIL
     Route: 065
  539. MYCOPHENOLATE MOFETIL [Suspect]
     Active Substance: MYCOPHENOLATE MOFETIL
     Route: 065
  540. OMALIZUMAB [Suspect]
     Active Substance: OMALIZUMAB
     Route: 065
  541. OMALIZUMAB [Suspect]
     Active Substance: OMALIZUMAB
     Dosage: 200 MILLIGRAM, 1 DOSE PER 4W
     Route: 065
  542. OMALIZUMAB [Suspect]
     Active Substance: OMALIZUMAB
     Dosage: 300 MILLIGRAM, 1 DOSE PER 4W
     Route: 065
  543. OMALIZUMAB [Suspect]
     Active Substance: OMALIZUMAB
     Route: 065
  544. OMALIZUMAB [Suspect]
     Active Substance: OMALIZUMAB
     Dosage: 450 MILLIGRAM, 1 DOSE PER 4W
     Route: 065
  545. OMALIZUMAB [Suspect]
     Active Substance: OMALIZUMAB
     Route: 065
  546. OMALIZUMAB [Suspect]
     Active Substance: OMALIZUMAB
     Dosage: 100 MILLIGRAM, BID
     Route: 065
  547. OMALIZUMAB [Suspect]
     Active Substance: OMALIZUMAB
     Dosage: 100 MILLIGRAM, BID
     Route: 065
  548. OMALIZUMAB [Suspect]
     Active Substance: OMALIZUMAB
     Dosage: 100 MILLIGRAM, BID (200 MG QD)
     Route: 065
  549. OMALIZUMAB [Suspect]
     Active Substance: OMALIZUMAB
     Route: 065
  550. OMALIZUMAB [Suspect]
     Active Substance: OMALIZUMAB
     Dosage: 200 MG, QD (100 MG, BID)
     Route: 065
  551. OMALIZUMAB [Suspect]
     Active Substance: OMALIZUMAB
     Dosage: 200 MG, QD, 100 MILLIGRAM, BID
     Route: 065
  552. OMALIZUMAB [Suspect]
     Active Substance: OMALIZUMAB
     Dosage: 200 MILLIGRAM, ONCE A DAY
     Route: 065
  553. OMALIZUMAB [Suspect]
     Active Substance: OMALIZUMAB
     Dosage: 200 MILLIGRAM, ONCE A DAY
     Route: 065
  554. OMALIZUMAB [Suspect]
     Active Substance: OMALIZUMAB
     Dosage: 200 MG, Q4W (450 MG, Q4W (4 WEEKLY)
     Route: 065
  555. OMALIZUMAB [Suspect]
     Active Substance: OMALIZUMAB
     Dosage: 200 MILLIGRAM, 1 DOSE PER 4W
     Route: 065
  556. OMALIZUMAB [Suspect]
     Active Substance: OMALIZUMAB
     Dosage: 200 MILLIGRAM, 1 DOSE PER 4W
     Route: 065
  557. OMALIZUMAB [Suspect]
     Active Substance: OMALIZUMAB
     Dosage: 200 MILLIGRAM, 1 DOSE PER 4W
     Route: 065
  558. OMALIZUMAB [Suspect]
     Active Substance: OMALIZUMAB
     Indication: Chronic spontaneous urticaria
     Dosage: 300 MILLIGRAM, 1 DOSE PER 4W
     Route: 065
  559. OMALIZUMAB [Suspect]
     Active Substance: OMALIZUMAB
     Dosage: 300 MILLIGRAM, 1 DOSE PER 4W
     Route: 065
  560. OMALIZUMAB [Suspect]
     Active Substance: OMALIZUMAB
     Dosage: 300 MILLIGRAM, 1 DOSE PER 4W
     Route: 065
  561. OMALIZUMAB [Suspect]
     Active Substance: OMALIZUMAB
     Route: 065
  562. OMALIZUMAB [Suspect]
     Active Substance: OMALIZUMAB
     Route: 065
  563. OMALIZUMAB [Suspect]
     Active Substance: OMALIZUMAB
     Route: 065
  564. OMALIZUMAB [Suspect]
     Active Substance: OMALIZUMAB
     Route: 065
  565. OMALIZUMAB [Suspect]
     Active Substance: OMALIZUMAB
     Route: 065
  566. OMALIZUMAB [Suspect]
     Active Substance: OMALIZUMAB
     Route: 065
  567. OMALIZUMAB [Suspect]
     Active Substance: OMALIZUMAB
     Route: 065
  568. OMALIZUMAB [Suspect]
     Active Substance: OMALIZUMAB
     Route: 065
  569. OMALIZUMAB [Suspect]
     Active Substance: OMALIZUMAB
     Dosage: 450 MG, Q4W (4 WEEKLY)
     Route: 065
  570. OMALIZUMAB [Suspect]
     Active Substance: OMALIZUMAB
     Dosage: 450 MG, Q4W (4 WEEKLY)
     Route: 065
  571. OMALIZUMAB [Suspect]
     Active Substance: OMALIZUMAB
     Dosage: 450 MG, Q4W, 4 WEEKLY, 1 DOSE PER 4W
     Route: 065
  572. OMALIZUMAB [Suspect]
     Active Substance: OMALIZUMAB
     Dosage: 450 MILLIGRAM, 1 DOSE PER 4W
     Route: 065
  573. OMALIZUMAB [Suspect]
     Active Substance: OMALIZUMAB
     Dosage: 450 MILLIGRAM, 1 DOSE PER 4W
     Route: 065
  574. OMALIZUMAB [Suspect]
     Active Substance: OMALIZUMAB
     Dosage: 450 MILLIGRAM, 1 DOSE PER 4W
     Route: 065
  575. OMALIZUMAB [Suspect]
     Active Substance: OMALIZUMAB
     Dosage: 450 MILLIGRAM, 1 DOSE PER 4W
     Route: 065
  576. OMALIZUMAB [Suspect]
     Active Substance: OMALIZUMAB
     Dosage: 450 MILLIGRAM, 1 DOSE PER 4W
     Route: 065
  577. OMALIZUMAB [Suspect]
     Active Substance: OMALIZUMAB
     Route: 065
  578. OMALIZUMAB [Suspect]
     Active Substance: OMALIZUMAB
     Route: 065
  579. OMALIZUMAB [Suspect]
     Active Substance: OMALIZUMAB
     Route: 065
  580. PREDNISOLONE [Suspect]
     Active Substance: PREDNISOLONE
     Route: 065
  581. PREDNISOLONE [Suspect]
     Active Substance: PREDNISOLONE
     Route: 065
  582. PREDNISOLONE [Suspect]
     Active Substance: PREDNISOLONE
     Route: 065
  583. PREDNISOLONE [Suspect]
     Active Substance: PREDNISOLONE
     Route: 065
  584. PREDNISOLONE [Suspect]
     Active Substance: PREDNISOLONE
     Route: 065
  585. PREDNISOLONE [Suspect]
     Active Substance: PREDNISOLONE
     Indication: Chronic spontaneous urticaria
     Route: 065
  586. RITUXIMAB [Suspect]
     Active Substance: RITUXIMAB
     Indication: Product used for unknown indication
     Route: 065
  587. RITUXIMAB [Suspect]
     Active Substance: RITUXIMAB
     Route: 065
  588. RITUXIMAB [Suspect]
     Active Substance: RITUXIMAB
     Route: 065
  589. RITUXIMAB [Suspect]
     Active Substance: RITUXIMAB
     Route: 065
  590. RITUXIMAB [Suspect]
     Active Substance: RITUXIMAB
     Route: 065
  591. RITUXIMAB [Suspect]
     Active Substance: RITUXIMAB
     Route: 065
  592. RITUXIMAB [Suspect]
     Active Substance: RITUXIMAB
     Route: 065
  593. RITUXIMAB [Suspect]
     Active Substance: RITUXIMAB
     Route: 065
  594. RITUXIMAB [Suspect]
     Active Substance: RITUXIMAB
     Route: 065
  595. RITUXIMAB [Suspect]
     Active Substance: RITUXIMAB
     Route: 065
  596. RITUXIMAB [Suspect]
     Active Substance: RITUXIMAB
     Route: 065
  597. RITUXIMAB [Suspect]
     Active Substance: RITUXIMAB
     Route: 065
  598. RITUXIMAB [Suspect]
     Active Substance: RITUXIMAB
     Route: 065
  599. RITUXIMAB [Suspect]
     Active Substance: RITUXIMAB
     Route: 065
  600. RITUXIMAB [Suspect]
     Active Substance: RITUXIMAB
     Route: 065
  601. RITUXIMAB [Suspect]
     Active Substance: RITUXIMAB
     Route: 065
  602. RITUXIMAB [Suspect]
     Active Substance: RITUXIMAB
     Route: 065
  603. RITUXIMAB [Suspect]
     Active Substance: RITUXIMAB
     Route: 065
  604. RITUXIMAB [Suspect]
     Active Substance: RITUXIMAB
     Route: 065
  605. RITUXIMAB [Suspect]
     Active Substance: RITUXIMAB
     Route: 065
  606. RITUXIMAB [Suspect]
     Active Substance: RITUXIMAB
     Route: 065
  607. RITUXIMAB [Suspect]
     Active Substance: RITUXIMAB
     Route: 065
  608. RITUXIMAB [Suspect]
     Active Substance: RITUXIMAB
     Route: 065
  609. RITUXIMAB [Suspect]
     Active Substance: RITUXIMAB
     Route: 065
  610. RITUXIMAB [Suspect]
     Active Substance: RITUXIMAB
     Route: 065
  611. RITUXIMAB [Suspect]
     Active Substance: RITUXIMAB
     Route: 065
  612. RITUXIMAB [Suspect]
     Active Substance: RITUXIMAB
     Route: 065
  613. RITUXIMAB [Suspect]
     Active Substance: RITUXIMAB
     Route: 065
  614. RITUXIMAB [Suspect]
     Active Substance: RITUXIMAB
     Route: 065
  615. RITUXIMAB [Suspect]
     Active Substance: RITUXIMAB
     Route: 065
  616. RITUXIMAB [Suspect]
     Active Substance: RITUXIMAB
     Route: 065
  617. RITUXIMAB [Suspect]
     Active Substance: RITUXIMAB
     Route: 065
  618. RITUXIMAB [Suspect]
     Active Substance: RITUXIMAB
     Route: 065
  619. RITUXIMAB [Suspect]
     Active Substance: RITUXIMAB
     Route: 065
  620. RITUXIMAB [Suspect]
     Active Substance: RITUXIMAB
     Route: 065
  621. RITUXIMAB [Suspect]
     Active Substance: RITUXIMAB
     Route: 065
  622. RITUXIMAB [Suspect]
     Active Substance: RITUXIMAB
     Route: 065
  623. RITUXIMAB [Suspect]
     Active Substance: RITUXIMAB
     Route: 065
  624. RITUXIMAB [Suspect]
     Active Substance: RITUXIMAB
     Route: 065
  625. RITUXIMAB [Suspect]
     Active Substance: RITUXIMAB
     Route: 065
  626. RITUXIMAB [Suspect]
     Active Substance: RITUXIMAB
     Route: 065
  627. RITUXIMAB [Suspect]
     Active Substance: RITUXIMAB
     Route: 065
  628. RITUXIMAB [Suspect]
     Active Substance: RITUXIMAB
     Route: 065
  629. RITUXIMAB [Suspect]
     Active Substance: RITUXIMAB
     Route: 065
  630. RITUXIMAB [Suspect]
     Active Substance: RITUXIMAB
     Route: 065
  631. RITUXIMAB [Suspect]
     Active Substance: RITUXIMAB
     Route: 065
  632. RITUXIMAB [Suspect]
     Active Substance: RITUXIMAB
     Route: 065
  633. RITUXIMAB [Suspect]
     Active Substance: RITUXIMAB
     Route: 065
  634. RITUXIMAB [Suspect]
     Active Substance: RITUXIMAB
     Route: 065
  635. RITUXIMAB [Suspect]
     Active Substance: RITUXIMAB
     Route: 065
  636. RITUXIMAB [Suspect]
     Active Substance: RITUXIMAB
     Route: 065
  637. RITUXIMAB [Suspect]
     Active Substance: RITUXIMAB
     Route: 065
  638. RITUXIMAB [Suspect]
     Active Substance: RITUXIMAB
     Route: 065
  639. RITUXIMAB [Suspect]
     Active Substance: RITUXIMAB
     Route: 065
  640. RITUXIMAB [Suspect]
     Active Substance: RITUXIMAB
     Route: 065
  641. RITUXIMAB [Suspect]
     Active Substance: RITUXIMAB
     Route: 065
  642. RITUXIMAB [Suspect]
     Active Substance: RITUXIMAB
     Route: 065
  643. RITUXIMAB [Suspect]
     Active Substance: RITUXIMAB
     Route: 065
  644. RITUXIMAB [Suspect]
     Active Substance: RITUXIMAB
     Route: 065
  645. RITUXIMAB [Suspect]
     Active Substance: RITUXIMAB
     Route: 065
  646. RITUXIMAB [Suspect]
     Active Substance: RITUXIMAB
     Route: 065
  647. RITUXIMAB [Suspect]
     Active Substance: RITUXIMAB
     Route: 065
  648. RITUXIMAB [Suspect]
     Active Substance: RITUXIMAB
     Route: 065
  649. RITUXIMAB [Suspect]
     Active Substance: RITUXIMAB
     Route: 065
  650. RITUXIMAB [Suspect]
     Active Substance: RITUXIMAB
     Route: 065
  651. RITUXIMAB [Suspect]
     Active Substance: RITUXIMAB
     Route: 065
  652. RITUXIMAB [Suspect]
     Active Substance: RITUXIMAB
     Route: 065
  653. RITUXIMAB [Suspect]
     Active Substance: RITUXIMAB
     Route: 065
  654. RITUXIMAB [Suspect]
     Active Substance: RITUXIMAB
     Route: 065
  655. RITUXIMAB [Suspect]
     Active Substance: RITUXIMAB
     Route: 065
  656. RITUXIMAB [Suspect]
     Active Substance: RITUXIMAB
     Route: 065
  657. RITUXIMAB [Suspect]
     Active Substance: RITUXIMAB
     Route: 065
  658. RITUXIMAB [Suspect]
     Active Substance: RITUXIMAB
     Route: 065
  659. RITUXIMAB [Suspect]
     Active Substance: RITUXIMAB
     Route: 065
  660. RITUXIMAB [Suspect]
     Active Substance: RITUXIMAB
     Route: 065
  661. RITUXIMAB [Suspect]
     Active Substance: RITUXIMAB
     Route: 065
  662. RITUXIMAB [Suspect]
     Active Substance: RITUXIMAB
     Route: 065
  663. RITUXIMAB [Suspect]
     Active Substance: RITUXIMAB
     Route: 065
  664. RITUXIMAB [Suspect]
     Active Substance: RITUXIMAB
     Route: 065
  665. RITUXIMAB [Suspect]
     Active Substance: RITUXIMAB
     Route: 065
  666. RITUXIMAB [Suspect]
     Active Substance: RITUXIMAB
     Route: 065
  667. RITUXIMAB [Suspect]
     Active Substance: RITUXIMAB
     Route: 065
  668. RITUXIMAB [Suspect]
     Active Substance: RITUXIMAB
     Route: 065
  669. RITUXIMAB [Suspect]
     Active Substance: RITUXIMAB
     Route: 065
  670. RITUXIMAB [Suspect]
     Active Substance: RITUXIMAB
     Route: 065
  671. RITUXIMAB [Suspect]
     Active Substance: RITUXIMAB
     Route: 065
  672. RITUXIMAB [Suspect]
     Active Substance: RITUXIMAB
     Route: 065
  673. RITUXIMAB [Suspect]
     Active Substance: RITUXIMAB
     Route: 065
  674. RITUXIMAB [Suspect]
     Active Substance: RITUXIMAB
     Route: 065
  675. RITUXIMAB [Suspect]
     Active Substance: RITUXIMAB
     Route: 065
  676. RITUXIMAB [Suspect]
     Active Substance: RITUXIMAB
     Route: 065
  677. RITUXIMAB [Suspect]
     Active Substance: RITUXIMAB
     Route: 065
  678. RITUXIMAB [Suspect]
     Active Substance: RITUXIMAB
     Route: 065
  679. RITUXIMAB [Suspect]
     Active Substance: RITUXIMAB
     Route: 065
  680. RITUXIMAB [Suspect]
     Active Substance: RITUXIMAB
     Route: 065
  681. RITUXIMAB [Suspect]
     Active Substance: RITUXIMAB
     Route: 065
  682. RITUXIMAB [Suspect]
     Active Substance: RITUXIMAB
     Route: 065
  683. RITUXIMAB [Suspect]
     Active Substance: RITUXIMAB
     Route: 065
  684. RITUXIMAB [Suspect]
     Active Substance: RITUXIMAB
     Route: 065
  685. RITUXIMAB [Suspect]
     Active Substance: RITUXIMAB
     Route: 065
  686. RITUXIMAB [Suspect]
     Active Substance: RITUXIMAB
     Route: 065
  687. RITUXIMAB [Suspect]
     Active Substance: RITUXIMAB
     Route: 065
  688. RITUXIMAB [Suspect]
     Active Substance: RITUXIMAB
     Route: 065
  689. RITUXIMAB [Suspect]
     Active Substance: RITUXIMAB
     Route: 065
  690. RITUXIMAB [Suspect]
     Active Substance: RITUXIMAB
     Route: 065
  691. RITUXIMAB [Suspect]
     Active Substance: RITUXIMAB
     Route: 065
  692. RITUXIMAB [Suspect]
     Active Substance: RITUXIMAB
     Route: 065
  693. RITUXIMAB [Suspect]
     Active Substance: RITUXIMAB
     Route: 065
  694. RITUXIMAB [Suspect]
     Active Substance: RITUXIMAB
     Route: 065
  695. RITUXIMAB [Suspect]
     Active Substance: RITUXIMAB
     Route: 065
  696. RITUXIMAB [Suspect]
     Active Substance: RITUXIMAB
     Route: 065
  697. RITUXIMAB [Suspect]
     Active Substance: RITUXIMAB
     Route: 065
  698. RITUXIMAB [Suspect]
     Active Substance: RITUXIMAB
     Route: 065
  699. RITUXIMAB [Suspect]
     Active Substance: RITUXIMAB
     Route: 065
  700. RITUXIMAB [Suspect]
     Active Substance: RITUXIMAB
     Route: 065
  701. RITUXIMAB [Suspect]
     Active Substance: RITUXIMAB
     Route: 065
  702. RITUXIMAB [Suspect]
     Active Substance: RITUXIMAB
     Route: 065
  703. RITUXIMAB [Suspect]
     Active Substance: RITUXIMAB
     Route: 065
  704. RITUXIMAB [Suspect]
     Active Substance: RITUXIMAB
     Route: 065
  705. RITUXIMAB [Suspect]
     Active Substance: RITUXIMAB
     Route: 065
  706. RITUXIMAB [Suspect]
     Active Substance: RITUXIMAB
     Route: 065
  707. RITUXIMAB [Suspect]
     Active Substance: RITUXIMAB
     Route: 065
  708. RITUXIMAB [Suspect]
     Active Substance: RITUXIMAB
     Route: 065
  709. RITUXIMAB [Suspect]
     Active Substance: RITUXIMAB
     Route: 065
  710. RITUXIMAB [Suspect]
     Active Substance: RITUXIMAB
     Route: 065
  711. RITUXIMAB [Suspect]
     Active Substance: RITUXIMAB
     Route: 065
  712. RITUXIMAB [Suspect]
     Active Substance: RITUXIMAB
     Route: 065
  713. RITUXIMAB [Suspect]
     Active Substance: RITUXIMAB
     Route: 065
  714. RITUXIMAB [Suspect]
     Active Substance: RITUXIMAB
     Route: 065
  715. RITUXIMAB [Suspect]
     Active Substance: RITUXIMAB
     Route: 065
  716. RITUXIMAB [Suspect]
     Active Substance: RITUXIMAB
     Route: 065
  717. RITUXIMAB [Suspect]
     Active Substance: RITUXIMAB
     Indication: Product used for unknown indication
     Route: 065
  718. RITUXIMAB [Suspect]
     Active Substance: RITUXIMAB
     Route: 065
  719. RITUXIMAB [Suspect]
     Active Substance: RITUXIMAB
     Route: 065
  720. RITUXIMAB [Suspect]
     Active Substance: RITUXIMAB
     Route: 065
  721. RITUXIMAB [Suspect]
     Active Substance: RITUXIMAB
     Route: 065
  722. RITUXIMAB [Suspect]
     Active Substance: RITUXIMAB
     Route: 065
  723. RITUXIMAB [Suspect]
     Active Substance: RITUXIMAB
     Route: 065
  724. RITUXIMAB [Suspect]
     Active Substance: RITUXIMAB
     Route: 065
  725. RITUXIMAB [Suspect]
     Active Substance: RITUXIMAB
     Route: 065
  726. RITUXIMAB [Suspect]
     Active Substance: RITUXIMAB
     Route: 065
  727. RITUXIMAB [Suspect]
     Active Substance: RITUXIMAB
     Route: 065
  728. RITUXIMAB [Suspect]
     Active Substance: RITUXIMAB
     Route: 065
  729. RITUXIMAB [Suspect]
     Active Substance: RITUXIMAB
     Route: 065
  730. RITUXIMAB [Suspect]
     Active Substance: RITUXIMAB
     Route: 065
  731. RITUXIMAB [Suspect]
     Active Substance: RITUXIMAB
     Route: 065
  732. RITUXIMAB [Suspect]
     Active Substance: RITUXIMAB
     Route: 065
  733. RITUXIMAB [Suspect]
     Active Substance: RITUXIMAB
     Route: 065
  734. RITUXIMAB [Suspect]
     Active Substance: RITUXIMAB
     Route: 065
  735. RITUXIMAB [Suspect]
     Active Substance: RITUXIMAB
     Route: 065
  736. RITUXIMAB [Suspect]
     Active Substance: RITUXIMAB
     Route: 065
  737. RITUXIMAB [Suspect]
     Active Substance: RITUXIMAB
     Route: 065
  738. RITUXIMAB [Suspect]
     Active Substance: RITUXIMAB
     Route: 065
  739. RITUXIMAB [Suspect]
     Active Substance: RITUXIMAB
     Route: 065
  740. RITUXIMAB [Suspect]
     Active Substance: RITUXIMAB
     Route: 065
  741. RITUXIMAB [Suspect]
     Active Substance: RITUXIMAB
     Route: 065
  742. RITUXIMAB [Suspect]
     Active Substance: RITUXIMAB
     Route: 065
  743. RITUXIMAB [Suspect]
     Active Substance: RITUXIMAB
     Route: 065
  744. RITUXIMAB [Suspect]
     Active Substance: RITUXIMAB
     Route: 065
  745. RITUXIMAB [Suspect]
     Active Substance: RITUXIMAB
     Route: 065
  746. RITUXIMAB [Suspect]
     Active Substance: RITUXIMAB
     Route: 065
  747. RITUXIMAB [Suspect]
     Active Substance: RITUXIMAB
     Route: 065
  748. RITUXIMAB [Suspect]
     Active Substance: RITUXIMAB
     Route: 065
  749. RITUXIMAB [Suspect]
     Active Substance: RITUXIMAB
     Route: 065
  750. RITUXIMAB [Suspect]
     Active Substance: RITUXIMAB
     Route: 065
  751. RITUXIMAB [Suspect]
     Active Substance: RITUXIMAB
     Route: 065
  752. RITUXIMAB [Suspect]
     Active Substance: RITUXIMAB
     Route: 065
  753. RITUXIMAB [Suspect]
     Active Substance: RITUXIMAB
     Route: 065
  754. RITUXIMAB [Suspect]
     Active Substance: RITUXIMAB
     Route: 065
  755. RITUXIMAB [Suspect]
     Active Substance: RITUXIMAB
     Route: 065
  756. RITUXIMAB [Suspect]
     Active Substance: RITUXIMAB
     Route: 065
  757. RITUXIMAB [Suspect]
     Active Substance: RITUXIMAB
     Route: 065
  758. RITUXIMAB [Suspect]
     Active Substance: RITUXIMAB
     Route: 065
  759. RITUXIMAB [Suspect]
     Active Substance: RITUXIMAB
     Route: 065
  760. RITUXIMAB [Suspect]
     Active Substance: RITUXIMAB
     Route: 065
  761. RITUXIMAB [Suspect]
     Active Substance: RITUXIMAB
     Route: 065
  762. RITUXIMAB [Suspect]
     Active Substance: RITUXIMAB
     Route: 065
  763. RITUXIMAB [Suspect]
     Active Substance: RITUXIMAB
     Route: 065
  764. RITUXIMAB [Suspect]
     Active Substance: RITUXIMAB
     Route: 065
  765. RITUXIMAB [Suspect]
     Active Substance: RITUXIMAB
     Route: 065
  766. RITUXIMAB [Suspect]
     Active Substance: RITUXIMAB
     Route: 065
  767. SULFASALAZINE [Suspect]
     Active Substance: SULFASALAZINE
     Route: 065
  768. SULFASALAZINE [Suspect]
     Active Substance: SULFASALAZINE
     Route: 065
  769. SULFASALAZINE [Suspect]
     Active Substance: SULFASALAZINE
     Route: 065
  770. SULFASALAZINE [Suspect]
     Active Substance: SULFASALAZINE
     Route: 065
  771. SULFASALAZINE [Suspect]
     Active Substance: SULFASALAZINE
     Route: 065
  772. SULFASALAZINE [Suspect]
     Active Substance: SULFASALAZINE
     Route: 065
  773. SULFASALAZINE [Suspect]
     Active Substance: SULFASALAZINE
     Indication: Autoimmune hypothyroidism
     Route: 065
  774. SULFASALAZINE [Suspect]
     Active Substance: SULFASALAZINE
     Indication: Chronic spontaneous urticaria
     Route: 065
  775. SULFASALAZINE [Suspect]
     Active Substance: SULFASALAZINE
     Route: 065
  776. SULFASALAZINE [Suspect]
     Active Substance: SULFASALAZINE
     Route: 065
  777. ENOXAPARIN [Concomitant]
     Active Substance: ENOXAPARIN
     Route: 065
  778. ENOXAPARIN [Concomitant]
     Active Substance: ENOXAPARIN
     Route: 065
  779. ENOXAPARIN [Concomitant]
     Active Substance: ENOXAPARIN
     Route: 065
  780. ENOXAPARIN [Concomitant]
     Active Substance: ENOXAPARIN
     Route: 065
  781. ENOXAPARIN [Concomitant]
     Active Substance: ENOXAPARIN
     Route: 065
  782. ENOXAPARIN [Concomitant]
     Active Substance: ENOXAPARIN
     Route: 065
  783. ENOXAPARIN [Concomitant]
     Active Substance: ENOXAPARIN
     Route: 065
  784. ENOXAPARIN [Concomitant]
     Active Substance: ENOXAPARIN
     Route: 065
  785. ENOXAPARIN [Concomitant]
     Active Substance: ENOXAPARIN
     Route: 065
  786. ENOXAPARIN [Concomitant]
     Active Substance: ENOXAPARIN
     Route: 065
  787. ENOXAPARIN [Concomitant]
     Active Substance: ENOXAPARIN
     Route: 065
  788. ENOXAPARIN [Concomitant]
     Active Substance: ENOXAPARIN
     Route: 065
  789. ENOXAPARIN [Concomitant]
     Active Substance: ENOXAPARIN
     Route: 065
  790. ENOXAPARIN [Concomitant]
     Active Substance: ENOXAPARIN
     Route: 065
  791. ENOXAPARIN [Concomitant]
     Active Substance: ENOXAPARIN
     Route: 065
  792. ENOXAPARIN [Concomitant]
     Active Substance: ENOXAPARIN
     Route: 065
  793. ENOXAPARIN [Concomitant]
     Active Substance: ENOXAPARIN
     Route: 065
  794. ENOXAPARIN [Concomitant]
     Active Substance: ENOXAPARIN
     Route: 065
  795. ENOXAPARIN [Concomitant]
     Active Substance: ENOXAPARIN
     Route: 065
  796. ENOXAPARIN [Concomitant]
     Active Substance: ENOXAPARIN
     Route: 065
  797. ENOXAPARIN [Concomitant]
     Active Substance: ENOXAPARIN
     Route: 065
  798. ENOXAPARIN [Concomitant]
     Active Substance: ENOXAPARIN
     Route: 065
  799. ENOXAPARIN [Concomitant]
     Active Substance: ENOXAPARIN
     Route: 065
  800. ENOXAPARIN [Concomitant]
     Active Substance: ENOXAPARIN
     Route: 065
  801. ENOXAPARIN [Concomitant]
     Active Substance: ENOXAPARIN
     Route: 065
  802. ENOXAPARIN [Concomitant]
     Active Substance: ENOXAPARIN
     Route: 065
  803. ENOXAPARIN [Concomitant]
     Active Substance: ENOXAPARIN
     Route: 065
  804. ENOXAPARIN [Concomitant]
     Active Substance: ENOXAPARIN
     Route: 065
  805. ENOXAPARIN [Concomitant]
     Active Substance: ENOXAPARIN
     Route: 065
  806. ENOXAPARIN [Concomitant]
     Active Substance: ENOXAPARIN
     Route: 065
  807. ENOXAPARIN [Concomitant]
     Active Substance: ENOXAPARIN
     Route: 065
  808. ENOXAPARIN [Concomitant]
     Active Substance: ENOXAPARIN
     Route: 065
  809. ENOXAPARIN [Concomitant]
     Active Substance: ENOXAPARIN
     Route: 065
  810. ENOXAPARIN [Concomitant]
     Active Substance: ENOXAPARIN
     Route: 065
  811. ENOXAPARIN [Concomitant]
     Active Substance: ENOXAPARIN
     Route: 065
  812. ENOXAPARIN [Concomitant]
     Active Substance: ENOXAPARIN
     Route: 065
  813. ENOXAPARIN [Concomitant]
     Active Substance: ENOXAPARIN
     Route: 065
  814. ENOXAPARIN [Concomitant]
     Active Substance: ENOXAPARIN
     Route: 065
  815. ENOXAPARIN [Concomitant]
     Active Substance: ENOXAPARIN
     Route: 065
  816. ENOXAPARIN [Concomitant]
     Active Substance: ENOXAPARIN
     Route: 065
  817. ENOXAPARIN [Concomitant]
     Active Substance: ENOXAPARIN
     Route: 065
  818. ENOXAPARIN [Concomitant]
     Active Substance: ENOXAPARIN
     Route: 065
  819. ENOXAPARIN [Concomitant]
     Active Substance: ENOXAPARIN
     Route: 065
  820. ENOXAPARIN [Concomitant]
     Active Substance: ENOXAPARIN
     Route: 065
  821. ENOXAPARIN [Concomitant]
     Active Substance: ENOXAPARIN
     Route: 065
  822. ENOXAPARIN [Concomitant]
     Active Substance: ENOXAPARIN
     Route: 065
  823. ENOXAPARIN [Concomitant]
     Active Substance: ENOXAPARIN
     Route: 065
  824. ENOXAPARIN [Concomitant]
     Active Substance: ENOXAPARIN
     Route: 065
  825. ENOXAPARIN [Concomitant]
     Active Substance: ENOXAPARIN
     Route: 065
  826. ENOXAPARIN [Concomitant]
     Active Substance: ENOXAPARIN
     Route: 065
  827. ENOXAPARIN [Concomitant]
     Active Substance: ENOXAPARIN
     Route: 065
  828. ENOXAPARIN [Concomitant]
     Active Substance: ENOXAPARIN
     Route: 065
  829. ENOXAPARIN [Concomitant]
     Active Substance: ENOXAPARIN
     Route: 065
  830. ENOXAPARIN [Concomitant]
     Active Substance: ENOXAPARIN
     Route: 065
  831. ENOXAPARIN [Concomitant]
     Active Substance: ENOXAPARIN
     Route: 065
  832. ENOXAPARIN [Concomitant]
     Active Substance: ENOXAPARIN
     Route: 065
  833. ENOXAPARIN [Concomitant]
     Active Substance: ENOXAPARIN
     Route: 065
  834. ENOXAPARIN [Concomitant]
     Active Substance: ENOXAPARIN
     Route: 065
  835. ENOXAPARIN [Concomitant]
     Active Substance: ENOXAPARIN
     Route: 065
  836. ENOXAPARIN [Concomitant]
     Active Substance: ENOXAPARIN
     Route: 065
  837. ENOXAPARIN [Concomitant]
     Active Substance: ENOXAPARIN
     Route: 065
  838. ENOXAPARIN [Concomitant]
     Active Substance: ENOXAPARIN
     Route: 065
  839. ENOXAPARIN [Concomitant]
     Active Substance: ENOXAPARIN
     Route: 065
  840. ENOXAPARIN [Concomitant]
     Active Substance: ENOXAPARIN
     Route: 065
  841. ENOXAPARIN [Concomitant]
     Active Substance: ENOXAPARIN
     Route: 065
  842. ENOXAPARIN [Concomitant]
     Active Substance: ENOXAPARIN
     Route: 065
  843. ENOXAPARIN [Concomitant]
     Active Substance: ENOXAPARIN
     Route: 065
  844. ENOXAPARIN [Concomitant]
     Active Substance: ENOXAPARIN
     Route: 065
  845. ENOXAPARIN [Concomitant]
     Active Substance: ENOXAPARIN
     Route: 065
  846. ENOXAPARIN [Concomitant]
     Active Substance: ENOXAPARIN
     Route: 065
  847. ENOXAPARIN [Concomitant]
     Active Substance: ENOXAPARIN
     Route: 065
  848. ENOXAPARIN [Concomitant]
     Active Substance: ENOXAPARIN
     Route: 065
  849. ENOXAPARIN [Concomitant]
     Active Substance: ENOXAPARIN
     Route: 065
  850. ENOXAPARIN [Concomitant]
     Active Substance: ENOXAPARIN
     Route: 065
  851. ENOXAPARIN [Concomitant]
     Active Substance: ENOXAPARIN
     Route: 065
  852. ENOXAPARIN [Concomitant]
     Active Substance: ENOXAPARIN
     Route: 065
  853. ENOXAPARIN [Concomitant]
     Active Substance: ENOXAPARIN
     Route: 065
  854. ENOXAPARIN [Concomitant]
     Active Substance: ENOXAPARIN
     Route: 065
  855. ENOXAPARIN [Concomitant]
     Active Substance: ENOXAPARIN
     Route: 065
  856. ENOXAPARIN [Concomitant]
     Active Substance: ENOXAPARIN
     Route: 065
  857. ENOXAPARIN [Concomitant]
     Active Substance: ENOXAPARIN
     Route: 065
  858. ENOXAPARIN [Concomitant]
     Active Substance: ENOXAPARIN
     Route: 065
  859. ENOXAPARIN [Concomitant]
     Active Substance: ENOXAPARIN
     Route: 065
  860. ENOXAPARIN [Concomitant]
     Active Substance: ENOXAPARIN
     Route: 065
  861. ENOXAPARIN [Concomitant]
     Active Substance: ENOXAPARIN
     Route: 065
  862. ENOXAPARIN [Concomitant]
     Active Substance: ENOXAPARIN
     Route: 065
  863. ENOXAPARIN [Concomitant]
     Active Substance: ENOXAPARIN
     Route: 065
  864. ENOXAPARIN [Concomitant]
     Active Substance: ENOXAPARIN
     Route: 065
  865. ENOXAPARIN [Concomitant]
     Active Substance: ENOXAPARIN
     Route: 065
  866. ENOXAPARIN [Concomitant]
     Active Substance: ENOXAPARIN
     Route: 065
  867. ENOXAPARIN [Concomitant]
     Active Substance: ENOXAPARIN
     Route: 065
  868. ENOXAPARIN [Concomitant]
     Active Substance: ENOXAPARIN
     Route: 065
  869. ENOXAPARIN [Concomitant]
     Active Substance: ENOXAPARIN
     Route: 065
  870. ENOXAPARIN [Concomitant]
     Active Substance: ENOXAPARIN
     Route: 065
  871. ENOXAPARIN [Concomitant]
     Active Substance: ENOXAPARIN
     Route: 065
  872. ENOXAPARIN [Concomitant]
     Active Substance: ENOXAPARIN
     Route: 065
  873. ENOXAPARIN [Concomitant]
     Active Substance: ENOXAPARIN
     Route: 065
  874. ENOXAPARIN [Concomitant]
     Active Substance: ENOXAPARIN
     Route: 065
  875. ENOXAPARIN [Concomitant]
     Active Substance: ENOXAPARIN
     Route: 065
  876. ENOXAPARIN [Concomitant]
     Active Substance: ENOXAPARIN
     Route: 065
  877. ENOXAPARIN [Concomitant]
     Active Substance: ENOXAPARIN
     Route: 065
  878. ENOXAPARIN [Concomitant]
     Active Substance: ENOXAPARIN
     Route: 065
  879. ENOXAPARIN [Concomitant]
     Active Substance: ENOXAPARIN
     Route: 065
  880. ENOXAPARIN [Concomitant]
     Active Substance: ENOXAPARIN
     Route: 065
  881. ENOXAPARIN [Concomitant]
     Active Substance: ENOXAPARIN
     Route: 065
  882. ENOXAPARIN [Concomitant]
     Active Substance: ENOXAPARIN
     Route: 065
  883. ENOXAPARIN [Concomitant]
     Active Substance: ENOXAPARIN
     Route: 065
  884. ENOXAPARIN [Concomitant]
     Active Substance: ENOXAPARIN
     Route: 065
  885. ENOXAPARIN [Concomitant]
     Active Substance: ENOXAPARIN
     Route: 065
  886. ENOXAPARIN [Concomitant]
     Active Substance: ENOXAPARIN
     Route: 065
  887. ENOXAPARIN [Concomitant]
     Active Substance: ENOXAPARIN
     Route: 065
  888. ENOXAPARIN [Concomitant]
     Active Substance: ENOXAPARIN
     Route: 065
  889. ENOXAPARIN [Concomitant]
     Active Substance: ENOXAPARIN
     Route: 065
  890. ENOXAPARIN [Concomitant]
     Active Substance: ENOXAPARIN
     Route: 065
  891. ENOXAPARIN [Concomitant]
     Active Substance: ENOXAPARIN
     Route: 065
  892. ENOXAPARIN [Concomitant]
     Active Substance: ENOXAPARIN
     Route: 065
  893. ENOXAPARIN [Concomitant]
     Active Substance: ENOXAPARIN
     Route: 065
  894. ENOXAPARIN [Concomitant]
     Active Substance: ENOXAPARIN
     Route: 065
  895. ENOXAPARIN [Concomitant]
     Active Substance: ENOXAPARIN
     Route: 065
  896. ENOXAPARIN [Concomitant]
     Active Substance: ENOXAPARIN
     Route: 065
  897. ENOXAPARIN [Concomitant]
     Active Substance: ENOXAPARIN
     Route: 065
  898. ENOXAPARIN [Concomitant]
     Active Substance: ENOXAPARIN
     Route: 065
  899. ENOXAPARIN [Concomitant]
     Active Substance: ENOXAPARIN
     Route: 065
  900. ENOXAPARIN [Concomitant]
     Active Substance: ENOXAPARIN
     Route: 065
  901. ENOXAPARIN [Concomitant]
     Active Substance: ENOXAPARIN
     Route: 065
  902. ENOXAPARIN [Concomitant]
     Active Substance: ENOXAPARIN
     Route: 065
  903. ENOXAPARIN [Concomitant]
     Active Substance: ENOXAPARIN
     Route: 065
  904. ENOXAPARIN [Concomitant]
     Active Substance: ENOXAPARIN
     Route: 065
  905. ENOXAPARIN [Concomitant]
     Active Substance: ENOXAPARIN
     Route: 065
  906. ENOXAPARIN [Concomitant]
     Active Substance: ENOXAPARIN
     Route: 065
  907. ENOXAPARIN [Concomitant]
     Active Substance: ENOXAPARIN
     Route: 065
  908. ENOXAPARIN [Concomitant]
     Active Substance: ENOXAPARIN
     Route: 065
  909. ENOXAPARIN [Concomitant]
     Active Substance: ENOXAPARIN
     Route: 065
  910. ENOXAPARIN [Concomitant]
     Active Substance: ENOXAPARIN
     Route: 065
  911. ENOXAPARIN [Concomitant]
     Active Substance: ENOXAPARIN
     Route: 065
  912. ENOXAPARIN [Concomitant]
     Active Substance: ENOXAPARIN
     Route: 065
  913. ENOXAPARIN [Concomitant]
     Active Substance: ENOXAPARIN
     Route: 065
  914. ENOXAPARIN [Concomitant]
     Active Substance: ENOXAPARIN
     Route: 065
  915. ENOXAPARIN [Concomitant]
     Active Substance: ENOXAPARIN
     Route: 065
  916. ENOXAPARIN [Concomitant]
     Active Substance: ENOXAPARIN
     Route: 065
  917. ENOXAPARIN [Concomitant]
     Active Substance: ENOXAPARIN
     Route: 065
  918. ENOXAPARIN [Concomitant]
     Active Substance: ENOXAPARIN
     Route: 065
  919. ENOXAPARIN [Concomitant]
     Active Substance: ENOXAPARIN
     Route: 065
  920. ENOXAPARIN [Concomitant]
     Active Substance: ENOXAPARIN
     Route: 065
  921. ENOXAPARIN [Concomitant]
     Active Substance: ENOXAPARIN
     Route: 065
  922. ENOXAPARIN [Concomitant]
     Active Substance: ENOXAPARIN
     Route: 065
  923. ENOXAPARIN [Concomitant]
     Active Substance: ENOXAPARIN
     Route: 065
  924. ENOXAPARIN [Concomitant]
     Active Substance: ENOXAPARIN
     Route: 065
  925. ENOXAPARIN [Concomitant]
     Active Substance: ENOXAPARIN
     Route: 065
  926. ENOXAPARIN [Concomitant]
     Active Substance: ENOXAPARIN
     Route: 065
  927. ENOXAPARIN [Concomitant]
     Active Substance: ENOXAPARIN
     Route: 065
  928. ENOXAPARIN [Concomitant]
     Active Substance: ENOXAPARIN
     Route: 065
  929. ENOXAPARIN [Concomitant]
     Active Substance: ENOXAPARIN
     Route: 065
  930. ENOXAPARIN [Concomitant]
     Active Substance: ENOXAPARIN
     Route: 065
  931. ENOXAPARIN [Concomitant]
     Active Substance: ENOXAPARIN
     Route: 065
  932. ENOXAPARIN [Concomitant]
     Active Substance: ENOXAPARIN
     Route: 065
  933. ENOXAPARIN [Concomitant]
     Active Substance: ENOXAPARIN
     Route: 065
  934. ENOXAPARIN [Concomitant]
     Active Substance: ENOXAPARIN
     Route: 065
  935. ENOXAPARIN [Concomitant]
     Active Substance: ENOXAPARIN
     Route: 065
  936. ENOXAPARIN [Concomitant]
     Active Substance: ENOXAPARIN
     Route: 065
  937. ENOXAPARIN [Concomitant]
     Active Substance: ENOXAPARIN
     Route: 065
  938. ENOXAPARIN [Concomitant]
     Active Substance: ENOXAPARIN
     Route: 065
  939. ENOXAPARIN [Concomitant]
     Active Substance: ENOXAPARIN
     Route: 065
  940. ENOXAPARIN [Concomitant]
     Active Substance: ENOXAPARIN
     Route: 065
  941. ENOXAPARIN [Concomitant]
     Active Substance: ENOXAPARIN
     Route: 065
  942. ENOXAPARIN [Concomitant]
     Active Substance: ENOXAPARIN
     Route: 065
  943. ENOXAPARIN [Concomitant]
     Active Substance: ENOXAPARIN
     Route: 065
  944. ENOXAPARIN [Concomitant]
     Active Substance: ENOXAPARIN
     Route: 065
  945. ENOXAPARIN [Concomitant]
     Active Substance: ENOXAPARIN
     Route: 065
  946. ENOXAPARIN [Concomitant]
     Active Substance: ENOXAPARIN
     Route: 065
  947. ENOXAPARIN [Concomitant]
     Active Substance: ENOXAPARIN
     Route: 065
  948. ENOXAPARIN [Concomitant]
     Active Substance: ENOXAPARIN
     Route: 065
  949. ENOXAPARIN [Concomitant]
     Active Substance: ENOXAPARIN
     Route: 065
  950. ENOXAPARIN [Concomitant]
     Active Substance: ENOXAPARIN
     Route: 065
  951. ENOXAPARIN [Concomitant]
     Active Substance: ENOXAPARIN
     Route: 065
  952. ENOXAPARIN [Concomitant]
     Active Substance: ENOXAPARIN
     Route: 065
  953. ENOXAPARIN [Concomitant]
     Active Substance: ENOXAPARIN
     Route: 065
  954. ENOXAPARIN [Concomitant]
     Active Substance: ENOXAPARIN
     Route: 065
  955. ENOXAPARIN [Concomitant]
     Active Substance: ENOXAPARIN
     Route: 065
  956. ENOXAPARIN [Concomitant]
     Active Substance: ENOXAPARIN
     Route: 065
  957. ENOXAPARIN [Concomitant]
     Active Substance: ENOXAPARIN
     Route: 065
  958. ENOXAPARIN [Concomitant]
     Active Substance: ENOXAPARIN
     Route: 065
  959. ENOXAPARIN [Concomitant]
     Active Substance: ENOXAPARIN
     Route: 065
  960. ENOXAPARIN [Concomitant]
     Active Substance: ENOXAPARIN
     Route: 065
  961. ENOXAPARIN [Concomitant]
     Active Substance: ENOXAPARIN
     Route: 065
  962. ENOXAPARIN [Concomitant]
     Active Substance: ENOXAPARIN
     Route: 065
  963. ENOXAPARIN [Concomitant]
     Active Substance: ENOXAPARIN
     Route: 065
  964. ENOXAPARIN [Concomitant]
     Active Substance: ENOXAPARIN
     Route: 065
  965. ENOXAPARIN [Concomitant]
     Active Substance: ENOXAPARIN
     Route: 065
  966. ENOXAPARIN [Concomitant]
     Active Substance: ENOXAPARIN
     Route: 065
  967. ENOXAPARIN [Concomitant]
     Active Substance: ENOXAPARIN
     Route: 065
  968. ENOXAPARIN [Concomitant]
     Active Substance: ENOXAPARIN
     Route: 065
  969. ENOXAPARIN [Concomitant]
     Active Substance: ENOXAPARIN
     Route: 065
  970. ENOXAPARIN [Concomitant]
     Active Substance: ENOXAPARIN
     Route: 065
  971. ENOXAPARIN [Concomitant]
     Active Substance: ENOXAPARIN
     Route: 065
  972. ENOXAPARIN [Concomitant]
     Active Substance: ENOXAPARIN
     Route: 065
  973. ENOXAPARIN [Concomitant]
     Active Substance: ENOXAPARIN
     Route: 065
  974. ENOXAPARIN [Concomitant]
     Active Substance: ENOXAPARIN
     Route: 065
  975. ENOXAPARIN [Concomitant]
     Active Substance: ENOXAPARIN
     Route: 065
  976. ENOXAPARIN [Concomitant]
     Active Substance: ENOXAPARIN
     Route: 065
  977. ENOXAPARIN [Concomitant]
     Active Substance: ENOXAPARIN
     Route: 065
  978. ENOXAPARIN [Concomitant]
     Active Substance: ENOXAPARIN
     Route: 065
  979. ENOXAPARIN [Concomitant]
     Active Substance: ENOXAPARIN
     Route: 065
  980. ENOXAPARIN [Concomitant]
     Active Substance: ENOXAPARIN
     Route: 065
  981. ENOXAPARIN [Concomitant]
     Active Substance: ENOXAPARIN
     Route: 065
  982. ENOXAPARIN [Concomitant]
     Active Substance: ENOXAPARIN
     Route: 065
  983. ENOXAPARIN [Concomitant]
     Active Substance: ENOXAPARIN
     Route: 065
  984. ENOXAPARIN [Concomitant]
     Active Substance: ENOXAPARIN
     Route: 065
  985. ENOXAPARIN [Concomitant]
     Active Substance: ENOXAPARIN
     Route: 065
  986. ENOXAPARIN [Concomitant]
     Active Substance: ENOXAPARIN
     Route: 065
  987. ENOXAPARIN [Concomitant]
     Active Substance: ENOXAPARIN
     Route: 065
  988. ENOXAPARIN [Concomitant]
     Active Substance: ENOXAPARIN
     Route: 065
  989. ENOXAPARIN [Concomitant]
     Active Substance: ENOXAPARIN
     Route: 065
  990. ENOXAPARIN [Concomitant]
     Active Substance: ENOXAPARIN
     Route: 065
  991. ENOXAPARIN [Concomitant]
     Active Substance: ENOXAPARIN
     Route: 065
  992. ENOXAPARIN [Concomitant]
     Active Substance: ENOXAPARIN
     Route: 065
  993. ENOXAPARIN [Concomitant]
     Active Substance: ENOXAPARIN
     Route: 065
  994. ENOXAPARIN [Concomitant]
     Active Substance: ENOXAPARIN
     Route: 065
  995. ENOXAPARIN [Concomitant]
     Active Substance: ENOXAPARIN
     Route: 065
  996. ENOXAPARIN [Concomitant]
     Active Substance: ENOXAPARIN
     Route: 065
  997. ENOXAPARIN [Concomitant]
     Active Substance: ENOXAPARIN
     Route: 065
  998. ENOXAPARIN [Concomitant]
     Active Substance: ENOXAPARIN
     Route: 065
  999. ENOXAPARIN [Concomitant]
     Active Substance: ENOXAPARIN
     Route: 065
  1000. ENOXAPARIN [Concomitant]
     Active Substance: ENOXAPARIN
     Route: 065
  1001. ENOXAPARIN [Concomitant]
     Active Substance: ENOXAPARIN
     Route: 065
  1002. ENOXAPARIN [Concomitant]
     Active Substance: ENOXAPARIN
     Route: 065
  1003. ENOXAPARIN [Concomitant]
     Active Substance: ENOXAPARIN
     Route: 065
  1004. ENOXAPARIN [Concomitant]
     Active Substance: ENOXAPARIN
     Route: 065
  1005. ENOXAPARIN [Concomitant]
     Active Substance: ENOXAPARIN
     Route: 065
  1006. ENOXAPARIN [Concomitant]
     Active Substance: ENOXAPARIN
     Route: 065
  1007. ENOXAPARIN [Concomitant]
     Active Substance: ENOXAPARIN
     Route: 065
  1008. ENOXAPARIN [Concomitant]
     Active Substance: ENOXAPARIN
     Route: 065
  1009. ENOXAPARIN [Concomitant]
     Active Substance: ENOXAPARIN
     Route: 065
  1010. ENOXAPARIN [Concomitant]
     Active Substance: ENOXAPARIN
     Route: 065
  1011. ENOXAPARIN [Concomitant]
     Active Substance: ENOXAPARIN
     Route: 065
  1012. ENOXAPARIN [Concomitant]
     Active Substance: ENOXAPARIN
     Route: 065
  1013. ENOXAPARIN [Concomitant]
     Active Substance: ENOXAPARIN
     Route: 065
  1014. ENOXAPARIN [Concomitant]
     Active Substance: ENOXAPARIN
     Route: 065
  1015. ENOXAPARIN [Concomitant]
     Active Substance: ENOXAPARIN
     Route: 065
  1016. ENOXAPARIN [Concomitant]
     Active Substance: ENOXAPARIN
     Route: 065
  1017. ENOXAPARIN [Concomitant]
     Active Substance: ENOXAPARIN
     Route: 065
  1018. ENOXAPARIN [Concomitant]
     Active Substance: ENOXAPARIN
     Route: 065
  1019. ENOXAPARIN [Concomitant]
     Active Substance: ENOXAPARIN
     Route: 065
  1020. ENOXAPARIN [Concomitant]
     Active Substance: ENOXAPARIN
     Route: 065
  1021. ENOXAPARIN [Concomitant]
     Active Substance: ENOXAPARIN
     Route: 065
  1022. ENOXAPARIN [Concomitant]
     Active Substance: ENOXAPARIN
     Route: 065
  1023. ENOXAPARIN [Concomitant]
     Active Substance: ENOXAPARIN
     Route: 065
  1024. ENOXAPARIN [Concomitant]
     Active Substance: ENOXAPARIN
     Route: 065
  1025. ENOXAPARIN [Concomitant]
     Active Substance: ENOXAPARIN
     Route: 065
  1026. ENOXAPARIN [Concomitant]
     Active Substance: ENOXAPARIN
     Route: 065
  1027. ENOXAPARIN [Concomitant]
     Active Substance: ENOXAPARIN
     Route: 065
  1028. ENOXAPARIN [Concomitant]
     Active Substance: ENOXAPARIN
     Route: 065
  1029. ENOXAPARIN [Concomitant]
     Active Substance: ENOXAPARIN
     Route: 065
  1030. ENOXAPARIN [Concomitant]
     Active Substance: ENOXAPARIN
     Route: 065
  1031. ENOXAPARIN [Concomitant]
     Active Substance: ENOXAPARIN
     Route: 065
  1032. ENOXAPARIN [Concomitant]
     Active Substance: ENOXAPARIN
     Route: 065
  1033. ENOXAPARIN [Concomitant]
     Active Substance: ENOXAPARIN
     Route: 065
  1034. ENOXAPARIN [Concomitant]
     Active Substance: ENOXAPARIN
     Route: 065
  1035. ENOXAPARIN [Concomitant]
     Active Substance: ENOXAPARIN
     Route: 065
  1036. ENOXAPARIN [Concomitant]
     Active Substance: ENOXAPARIN
     Route: 065
  1037. ENOXAPARIN [Concomitant]
     Active Substance: ENOXAPARIN
     Route: 065
  1038. ENOXAPARIN [Concomitant]
     Active Substance: ENOXAPARIN
     Route: 065
  1039. ENOXAPARIN [Concomitant]
     Active Substance: ENOXAPARIN
     Route: 065
  1040. ENOXAPARIN [Concomitant]
     Active Substance: ENOXAPARIN
     Route: 065
  1041. ENOXAPARIN [Concomitant]
     Active Substance: ENOXAPARIN
     Route: 065
  1042. ENOXAPARIN [Concomitant]
     Active Substance: ENOXAPARIN
     Route: 065
  1043. ENOXAPARIN [Concomitant]
     Active Substance: ENOXAPARIN
     Route: 065
  1044. ENOXAPARIN [Concomitant]
     Active Substance: ENOXAPARIN
     Route: 065
  1045. ENOXAPARIN [Concomitant]
     Active Substance: ENOXAPARIN
     Route: 065
  1046. ENOXAPARIN [Concomitant]
     Active Substance: ENOXAPARIN
     Route: 065
  1047. ENOXAPARIN [Concomitant]
     Active Substance: ENOXAPARIN
     Route: 065
  1048. ENOXAPARIN [Concomitant]
     Active Substance: ENOXAPARIN
     Route: 065
  1049. ENOXAPARIN [Concomitant]
     Active Substance: ENOXAPARIN
     Route: 065
  1050. ENOXAPARIN [Concomitant]
     Active Substance: ENOXAPARIN
     Route: 065
  1051. ENOXAPARIN [Concomitant]
     Active Substance: ENOXAPARIN
     Route: 065
  1052. ENOXAPARIN [Concomitant]
     Active Substance: ENOXAPARIN
     Route: 065
  1053. ENOXAPARIN [Concomitant]
     Active Substance: ENOXAPARIN
     Route: 065
  1054. ENOXAPARIN [Concomitant]
     Active Substance: ENOXAPARIN
     Route: 065
  1055. ENOXAPARIN [Concomitant]
     Active Substance: ENOXAPARIN
     Route: 065
  1056. ENOXAPARIN [Concomitant]
     Active Substance: ENOXAPARIN
     Route: 065
  1057. ENOXAPARIN [Concomitant]
     Active Substance: ENOXAPARIN
     Route: 065
  1058. ENOXAPARIN [Concomitant]
     Active Substance: ENOXAPARIN
     Route: 065
  1059. ENOXAPARIN [Concomitant]
     Active Substance: ENOXAPARIN
     Route: 065
  1060. ENOXAPARIN [Concomitant]
     Active Substance: ENOXAPARIN
     Route: 065
  1061. ENOXAPARIN [Concomitant]
     Active Substance: ENOXAPARIN
     Route: 065
  1062. ENOXAPARIN [Concomitant]
     Active Substance: ENOXAPARIN
     Route: 065
  1063. ENOXAPARIN [Concomitant]
     Active Substance: ENOXAPARIN
     Route: 065
  1064. ENOXAPARIN [Concomitant]
     Active Substance: ENOXAPARIN
     Route: 065
  1065. ENOXAPARIN [Concomitant]
     Active Substance: ENOXAPARIN
     Route: 065
  1066. ENOXAPARIN [Concomitant]
     Active Substance: ENOXAPARIN
     Route: 065
  1067. ENOXAPARIN [Concomitant]
     Active Substance: ENOXAPARIN
     Route: 065
  1068. ENOXAPARIN [Concomitant]
     Active Substance: ENOXAPARIN
     Route: 065
  1069. ENOXAPARIN [Concomitant]
     Active Substance: ENOXAPARIN
     Route: 065
  1070. ENOXAPARIN [Concomitant]
     Active Substance: ENOXAPARIN
     Route: 065
  1071. ENOXAPARIN [Concomitant]
     Active Substance: ENOXAPARIN
     Route: 065
  1072. ENOXAPARIN [Concomitant]
     Active Substance: ENOXAPARIN
     Route: 065
  1073. ENOXAPARIN [Concomitant]
     Active Substance: ENOXAPARIN
     Route: 065
  1074. ENOXAPARIN [Concomitant]
     Active Substance: ENOXAPARIN
     Route: 065
  1075. ENOXAPARIN [Concomitant]
     Active Substance: ENOXAPARIN
     Route: 065
  1076. ENOXAPARIN [Concomitant]
     Active Substance: ENOXAPARIN
     Route: 065
  1077. ENOXAPARIN [Concomitant]
     Active Substance: ENOXAPARIN
     Route: 065
  1078. ENOXAPARIN [Concomitant]
     Active Substance: ENOXAPARIN
     Route: 065
  1079. ENOXAPARIN [Concomitant]
     Active Substance: ENOXAPARIN
     Route: 065
  1080. ENOXAPARIN [Concomitant]
     Active Substance: ENOXAPARIN
     Route: 065
  1081. ENOXAPARIN [Concomitant]
     Active Substance: ENOXAPARIN
     Route: 065
  1082. ENOXAPARIN [Concomitant]
     Active Substance: ENOXAPARIN
     Route: 065
  1083. ENOXAPARIN [Concomitant]
     Active Substance: ENOXAPARIN
     Route: 065
  1084. ENOXAPARIN [Concomitant]
     Active Substance: ENOXAPARIN
     Route: 065
  1085. ENOXAPARIN [Concomitant]
     Active Substance: ENOXAPARIN
     Route: 065
  1086. ENOXAPARIN [Concomitant]
     Active Substance: ENOXAPARIN
     Route: 065
  1087. ENOXAPARIN [Concomitant]
     Active Substance: ENOXAPARIN
     Route: 065
  1088. ENOXAPARIN [Concomitant]
     Active Substance: ENOXAPARIN
     Route: 065
  1089. ENOXAPARIN [Concomitant]
     Active Substance: ENOXAPARIN
     Route: 065
  1090. ENOXAPARIN [Concomitant]
     Active Substance: ENOXAPARIN
     Route: 065
  1091. ENOXAPARIN [Concomitant]
     Active Substance: ENOXAPARIN
     Route: 065
  1092. ENOXAPARIN [Concomitant]
     Active Substance: ENOXAPARIN
     Route: 065
  1093. ENOXAPARIN [Concomitant]
     Active Substance: ENOXAPARIN
     Route: 065
  1094. ENOXAPARIN [Concomitant]
     Active Substance: ENOXAPARIN
     Route: 065
  1095. ENOXAPARIN [Concomitant]
     Active Substance: ENOXAPARIN
     Route: 065
  1096. ENOXAPARIN [Concomitant]
     Active Substance: ENOXAPARIN
     Route: 065
  1097. ENOXAPARIN [Concomitant]
     Active Substance: ENOXAPARIN
     Route: 065
  1098. ENOXAPARIN [Concomitant]
     Active Substance: ENOXAPARIN
     Route: 065
  1099. ENOXAPARIN [Concomitant]
     Active Substance: ENOXAPARIN
     Route: 065
  1100. ENOXAPARIN [Concomitant]
     Active Substance: ENOXAPARIN
     Route: 065
  1101. ENOXAPARIN [Concomitant]
     Active Substance: ENOXAPARIN
     Route: 065
  1102. ENOXAPARIN [Concomitant]
     Active Substance: ENOXAPARIN
     Route: 065
  1103. ENOXAPARIN [Concomitant]
     Active Substance: ENOXAPARIN
     Route: 065
  1104. ENOXAPARIN [Concomitant]
     Active Substance: ENOXAPARIN
     Route: 065
  1105. ENOXAPARIN [Concomitant]
     Active Substance: ENOXAPARIN
     Route: 065
  1106. ENOXAPARIN [Concomitant]
     Active Substance: ENOXAPARIN
     Route: 065
  1107. ENOXAPARIN [Concomitant]
     Active Substance: ENOXAPARIN
     Route: 065
  1108. ENOXAPARIN [Concomitant]
     Active Substance: ENOXAPARIN
     Route: 065
  1109. ENOXAPARIN [Concomitant]
     Active Substance: ENOXAPARIN
     Route: 065
  1110. ENOXAPARIN [Concomitant]
     Active Substance: ENOXAPARIN
     Route: 065
  1111. ENOXAPARIN [Concomitant]
     Active Substance: ENOXAPARIN
     Route: 065
  1112. ENOXAPARIN [Concomitant]
     Active Substance: ENOXAPARIN
     Route: 065
  1113. ENOXAPARIN [Concomitant]
     Active Substance: ENOXAPARIN
     Route: 065
  1114. ENOXAPARIN [Concomitant]
     Active Substance: ENOXAPARIN
     Route: 065
  1115. ENOXAPARIN [Concomitant]
     Active Substance: ENOXAPARIN
     Route: 065
  1116. ENOXAPARIN [Concomitant]
     Active Substance: ENOXAPARIN
     Route: 065
  1117. ENOXAPARIN [Concomitant]
     Active Substance: ENOXAPARIN
     Route: 065
  1118. ENOXAPARIN [Concomitant]
     Active Substance: ENOXAPARIN
     Route: 065
  1119. ENOXAPARIN [Concomitant]
     Active Substance: ENOXAPARIN
     Route: 065
  1120. ENOXAPARIN [Concomitant]
     Active Substance: ENOXAPARIN
     Route: 065
  1121. ENOXAPARIN [Concomitant]
     Active Substance: ENOXAPARIN
     Route: 065
  1122. ENOXAPARIN [Concomitant]
     Active Substance: ENOXAPARIN
     Route: 065
  1123. ENOXAPARIN [Concomitant]
     Active Substance: ENOXAPARIN
     Route: 065
  1124. ENOXAPARIN [Concomitant]
     Active Substance: ENOXAPARIN
     Route: 065
  1125. ENOXAPARIN [Concomitant]
     Active Substance: ENOXAPARIN
     Route: 065
  1126. ENOXAPARIN [Concomitant]
     Active Substance: ENOXAPARIN
     Route: 065
  1127. ENOXAPARIN [Concomitant]
     Active Substance: ENOXAPARIN
     Route: 065
  1128. ENOXAPARIN [Concomitant]
     Active Substance: ENOXAPARIN
     Route: 065
  1129. ENOXAPARIN [Concomitant]
     Active Substance: ENOXAPARIN
     Route: 065
  1130. ENOXAPARIN [Concomitant]
     Active Substance: ENOXAPARIN
     Route: 065
  1131. ENOXAPARIN [Concomitant]
     Active Substance: ENOXAPARIN
     Route: 065
  1132. ENOXAPARIN [Concomitant]
     Active Substance: ENOXAPARIN
     Route: 065
  1133. ENOXAPARIN [Concomitant]
     Active Substance: ENOXAPARIN
     Route: 065
  1134. ENOXAPARIN [Concomitant]
     Active Substance: ENOXAPARIN
     Route: 065
  1135. ENOXAPARIN [Concomitant]
     Active Substance: ENOXAPARIN
     Route: 065
  1136. ENOXAPARIN [Concomitant]
     Active Substance: ENOXAPARIN
     Route: 065
  1137. ENOXAPARIN [Concomitant]
     Active Substance: ENOXAPARIN
     Route: 065
  1138. ENOXAPARIN [Concomitant]
     Active Substance: ENOXAPARIN
     Route: 065
  1139. ENOXAPARIN [Concomitant]
     Active Substance: ENOXAPARIN
     Route: 065
  1140. ENOXAPARIN [Concomitant]
     Active Substance: ENOXAPARIN
     Route: 065
  1141. ENOXAPARIN [Concomitant]
     Active Substance: ENOXAPARIN
     Route: 065
  1142. ENOXAPARIN [Concomitant]
     Active Substance: ENOXAPARIN
     Route: 065
  1143. ENOXAPARIN [Concomitant]
     Active Substance: ENOXAPARIN
     Route: 065
  1144. ENOXAPARIN [Concomitant]
     Active Substance: ENOXAPARIN
     Route: 065
  1145. ENOXAPARIN [Concomitant]
     Active Substance: ENOXAPARIN
     Route: 065
  1146. ENOXAPARIN [Concomitant]
     Active Substance: ENOXAPARIN
     Route: 065
  1147. ENOXAPARIN [Concomitant]
     Active Substance: ENOXAPARIN
     Route: 065
  1148. ENOXAPARIN [Concomitant]
     Active Substance: ENOXAPARIN
     Route: 065
  1149. ENOXAPARIN [Concomitant]
     Active Substance: ENOXAPARIN
     Route: 065
  1150. ENOXAPARIN [Concomitant]
     Active Substance: ENOXAPARIN
     Route: 065
  1151. ENOXAPARIN [Concomitant]
     Active Substance: ENOXAPARIN
     Route: 065
  1152. ENOXAPARIN [Concomitant]
     Active Substance: ENOXAPARIN
     Route: 065
  1153. ENOXAPARIN [Concomitant]
     Active Substance: ENOXAPARIN
     Route: 065
  1154. ENOXAPARIN [Concomitant]
     Active Substance: ENOXAPARIN
     Route: 065
  1155. ENOXAPARIN [Concomitant]
     Active Substance: ENOXAPARIN
     Route: 065
  1156. ENOXAPARIN [Concomitant]
     Active Substance: ENOXAPARIN
     Route: 065
  1157. ENOXAPARIN [Concomitant]
     Active Substance: ENOXAPARIN
     Route: 065
  1158. ENOXAPARIN [Concomitant]
     Active Substance: ENOXAPARIN
     Route: 065
  1159. ENOXAPARIN [Concomitant]
     Active Substance: ENOXAPARIN
     Route: 065
  1160. ENOXAPARIN [Concomitant]
     Active Substance: ENOXAPARIN
     Route: 065
  1161. ENOXAPARIN [Concomitant]
     Active Substance: ENOXAPARIN
     Route: 065
  1162. ENOXAPARIN [Concomitant]
     Active Substance: ENOXAPARIN
     Route: 065
  1163. ENOXAPARIN [Concomitant]
     Active Substance: ENOXAPARIN
     Route: 065
  1164. ENOXAPARIN [Concomitant]
     Active Substance: ENOXAPARIN
     Route: 065
  1165. ENOXAPARIN [Concomitant]
     Active Substance: ENOXAPARIN
     Route: 065
  1166. ENOXAPARIN [Concomitant]
     Active Substance: ENOXAPARIN
     Route: 065
  1167. ENOXAPARIN [Concomitant]
     Active Substance: ENOXAPARIN
     Route: 065
  1168. ENOXAPARIN [Concomitant]
     Active Substance: ENOXAPARIN
     Route: 065
  1169. ENOXAPARIN [Concomitant]
     Active Substance: ENOXAPARIN
     Route: 065
  1170. ENOXAPARIN [Concomitant]
     Active Substance: ENOXAPARIN
     Route: 065
  1171. ENOXAPARIN [Concomitant]
     Active Substance: ENOXAPARIN
     Route: 065
  1172. ENOXAPARIN [Concomitant]
     Active Substance: ENOXAPARIN
     Route: 065
  1173. ENOXAPARIN [Concomitant]
     Active Substance: ENOXAPARIN
     Route: 065
  1174. ENOXAPARIN [Concomitant]
     Active Substance: ENOXAPARIN
     Route: 065
  1175. ENOXAPARIN [Concomitant]
     Active Substance: ENOXAPARIN
     Route: 065
  1176. ENOXAPARIN [Concomitant]
     Active Substance: ENOXAPARIN
     Route: 065
  1177. ENOXAPARIN [Concomitant]
     Active Substance: ENOXAPARIN
     Route: 065
  1178. ENOXAPARIN [Concomitant]
     Active Substance: ENOXAPARIN
     Route: 065
  1179. ENOXAPARIN [Concomitant]
     Active Substance: ENOXAPARIN
     Route: 065
  1180. ENOXAPARIN [Concomitant]
     Active Substance: ENOXAPARIN
     Route: 065
  1181. ENOXAPARIN [Concomitant]
     Active Substance: ENOXAPARIN
     Route: 065
  1182. ENOXAPARIN [Concomitant]
     Active Substance: ENOXAPARIN
     Route: 065
  1183. ENOXAPARIN [Concomitant]
     Active Substance: ENOXAPARIN
     Route: 065
  1184. ENOXAPARIN [Concomitant]
     Active Substance: ENOXAPARIN
     Route: 065
  1185. ENOXAPARIN [Concomitant]
     Active Substance: ENOXAPARIN
     Route: 065
  1186. ENOXAPARIN [Concomitant]
     Active Substance: ENOXAPARIN
     Route: 065
  1187. ENOXAPARIN [Concomitant]
     Active Substance: ENOXAPARIN
     Route: 065
  1188. ENOXAPARIN [Concomitant]
     Active Substance: ENOXAPARIN
     Route: 065
  1189. ENOXAPARIN [Concomitant]
     Active Substance: ENOXAPARIN
     Route: 065
  1190. ENOXAPARIN [Concomitant]
     Active Substance: ENOXAPARIN
     Route: 065
  1191. ENOXAPARIN [Concomitant]
     Active Substance: ENOXAPARIN
     Route: 065
  1192. ENOXAPARIN [Concomitant]
     Active Substance: ENOXAPARIN
     Route: 065
  1193. ENOXAPARIN [Concomitant]
     Active Substance: ENOXAPARIN
     Route: 065
  1194. ENOXAPARIN [Concomitant]
     Active Substance: ENOXAPARIN
     Route: 065
  1195. ENOXAPARIN [Concomitant]
     Active Substance: ENOXAPARIN
     Route: 065
  1196. ENOXAPARIN [Concomitant]
     Active Substance: ENOXAPARIN
     Route: 065
  1197. ENOXAPARIN [Concomitant]
     Active Substance: ENOXAPARIN
     Route: 065
  1198. ENOXAPARIN [Concomitant]
     Active Substance: ENOXAPARIN
     Route: 065
  1199. ENOXAPARIN [Concomitant]
     Active Substance: ENOXAPARIN
     Route: 065
  1200. ENOXAPARIN [Concomitant]
     Active Substance: ENOXAPARIN
     Route: 065
  1201. ENOXAPARIN [Concomitant]
     Active Substance: ENOXAPARIN
     Route: 065
  1202. ENOXAPARIN [Concomitant]
     Active Substance: ENOXAPARIN
     Route: 065
  1203. ENOXAPARIN [Concomitant]
     Active Substance: ENOXAPARIN
     Route: 065
  1204. ENOXAPARIN [Concomitant]
     Active Substance: ENOXAPARIN
     Route: 065
  1205. ENOXAPARIN [Concomitant]
     Active Substance: ENOXAPARIN
     Route: 065
  1206. ENOXAPARIN [Concomitant]
     Active Substance: ENOXAPARIN
     Route: 065
  1207. ENOXAPARIN [Concomitant]
     Active Substance: ENOXAPARIN
     Route: 065
  1208. ENOXAPARIN [Concomitant]
     Active Substance: ENOXAPARIN
     Indication: Antiphospholipid syndrome
     Route: 065
  1209. ENOXAPARIN [Concomitant]
     Active Substance: ENOXAPARIN
     Indication: Antiphospholipid syndrome
     Route: 065
  1210. ENOXAPARIN [Concomitant]
     Active Substance: ENOXAPARIN
     Indication: Autoimmune hypothyroidism
     Route: 065
  1211. ENOXAPARIN [Concomitant]
     Active Substance: ENOXAPARIN
     Route: 065
  1212. ENOXAPARIN [Concomitant]
     Active Substance: ENOXAPARIN
     Route: 065
  1213. ENOXAPARIN [Concomitant]
     Active Substance: ENOXAPARIN
     Route: 065
  1214. ENOXAPARIN [Concomitant]
     Active Substance: ENOXAPARIN
     Route: 065
  1215. ENOXAPARIN [Concomitant]
     Active Substance: ENOXAPARIN
     Route: 065
  1216. ENOXAPARIN [Concomitant]
     Active Substance: ENOXAPARIN
     Route: 065
  1217. ENOXAPARIN [Concomitant]
     Active Substance: ENOXAPARIN
     Route: 065
  1218. ENOXAPARIN [Concomitant]
     Active Substance: ENOXAPARIN
     Route: 065
  1219. ENOXAPARIN [Concomitant]
     Active Substance: ENOXAPARIN
     Route: 065
  1220. ENOXAPARIN [Concomitant]
     Active Substance: ENOXAPARIN
     Route: 065
  1221. ENOXAPARIN [Concomitant]
     Active Substance: ENOXAPARIN
     Route: 065
  1222. ENOXAPARIN [Concomitant]
     Active Substance: ENOXAPARIN
     Route: 065
  1223. ENOXAPARIN [Concomitant]
     Active Substance: ENOXAPARIN
     Route: 065
  1224. ENOXAPARIN [Concomitant]
     Active Substance: ENOXAPARIN
     Route: 065
  1225. ENOXAPARIN [Concomitant]
     Active Substance: ENOXAPARIN
     Route: 065
  1226. ENOXAPARIN [Concomitant]
     Active Substance: ENOXAPARIN
     Route: 065
  1227. ENOXAPARIN [Concomitant]
     Active Substance: ENOXAPARIN
     Route: 065
  1228. ENOXAPARIN [Concomitant]
     Active Substance: ENOXAPARIN
     Route: 065
  1229. ENOXAPARIN [Concomitant]
     Active Substance: ENOXAPARIN
     Route: 065
  1230. ENOXAPARIN [Concomitant]
     Active Substance: ENOXAPARIN
     Route: 065
  1231. ENOXAPARIN [Concomitant]
     Active Substance: ENOXAPARIN
     Route: 065
  1232. ENOXAPARIN [Concomitant]
     Active Substance: ENOXAPARIN
     Route: 065
  1233. ENOXAPARIN [Concomitant]
     Active Substance: ENOXAPARIN
     Route: 065
  1234. ENOXAPARIN [Concomitant]
     Active Substance: ENOXAPARIN
     Route: 065
  1235. ENOXAPARIN [Concomitant]
     Active Substance: ENOXAPARIN
     Route: 065
  1236. ENOXAPARIN [Concomitant]
     Active Substance: ENOXAPARIN
     Route: 065
  1237. ENOXAPARIN [Concomitant]
     Active Substance: ENOXAPARIN
     Route: 065
  1238. ENOXAPARIN [Concomitant]
     Active Substance: ENOXAPARIN
     Route: 065
  1239. ENOXAPARIN [Concomitant]
     Active Substance: ENOXAPARIN
     Route: 065
  1240. ENOXAPARIN [Concomitant]
     Active Substance: ENOXAPARIN
     Route: 065
  1241. ENOXAPARIN [Concomitant]
     Active Substance: ENOXAPARIN
     Route: 065
  1242. ENOXAPARIN [Concomitant]
     Active Substance: ENOXAPARIN
     Route: 065
  1243. ENOXAPARIN [Concomitant]
     Active Substance: ENOXAPARIN
     Route: 065
  1244. ENOXAPARIN [Concomitant]
     Active Substance: ENOXAPARIN
     Route: 065
  1245. ENOXAPARIN [Concomitant]
     Active Substance: ENOXAPARIN
     Route: 065
  1246. ENOXAPARIN [Concomitant]
     Active Substance: ENOXAPARIN
     Route: 065
  1247. ENOXAPARIN [Concomitant]
     Active Substance: ENOXAPARIN
     Route: 065
  1248. ENOXAPARIN [Concomitant]
     Active Substance: ENOXAPARIN
     Route: 065
  1249. ENOXAPARIN [Concomitant]
     Active Substance: ENOXAPARIN
     Route: 065
  1250. ENOXAPARIN [Concomitant]
     Active Substance: ENOXAPARIN
     Route: 065
  1251. ENOXAPARIN [Concomitant]
     Active Substance: ENOXAPARIN
     Route: 065
  1252. ENOXAPARIN [Concomitant]
     Active Substance: ENOXAPARIN
     Route: 065
  1253. ENOXAPARIN [Concomitant]
     Active Substance: ENOXAPARIN
     Route: 065
  1254. ENOXAPARIN [Concomitant]
     Active Substance: ENOXAPARIN
     Route: 065
  1255. ENOXAPARIN [Concomitant]
     Active Substance: ENOXAPARIN
     Route: 065
  1256. ENOXAPARIN [Concomitant]
     Active Substance: ENOXAPARIN
     Route: 065
  1257. ENOXAPARIN [Concomitant]
     Active Substance: ENOXAPARIN
     Route: 065

REACTIONS (6)
  - Angioedema [Unknown]
  - Treatment failure [Unknown]
  - Mental disorder [Unknown]
  - Emotional distress [Unknown]
  - Disease recurrence [Unknown]
  - Chronic spontaneous urticaria [Unknown]
